FAERS Safety Report 24434064 (Version 3)
Quarter: 2024Q4

REPORT INFORMATION
  Report Type: Spontaneous
  Country: CA (occurrence: CA)
  Receive Date: 20241014
  Receipt Date: 20241108
  Transmission Date: 20250115
  Serious: Yes (Other)
  Sender: MYLAN
  Company Number: CA-MYLANLABS-2024M1082654

PATIENT
  Age: 53 Year
  Sex: Male

DRUGS (612)
  1. LEVOTHYROXINE [Suspect]
     Active Substance: LEVOTHYROXINE
     Indication: Product used for unknown indication
     Dosage: 100 MILLIGRAM
     Route: 065
  2. EPINEPHRINE [Suspect]
     Active Substance: EPINEPHRINE
     Indication: Product used for unknown indication
     Dosage: UNK
     Route: 065
  3. GABAPENTIN [Suspect]
     Active Substance: GABAPENTIN
     Indication: Product used for unknown indication
     Dosage: 300 MILLIGRAM
     Route: 065
  4. GABAPENTIN [Suspect]
     Active Substance: GABAPENTIN
     Dosage: 900 MILLIGRAM, QD (300 MILLIGRAM, 3 DOSE PER 1 D)
     Route: 065
  5. ESCITALOPRAM [Suspect]
     Active Substance: ESCITALOPRAM OXALATE
     Indication: Product used for unknown indication
     Dosage: 10 MILLIGRAM
     Route: 065
  6. SYNTHROID [Suspect]
     Active Substance: LEVOTHYROXINE SODIUM
     Indication: Product used for unknown indication
     Dosage: UNK
     Route: 065
  7. METFORMIN [Suspect]
     Active Substance: METFORMIN HYDROCHLORIDE
     Indication: Product used for unknown indication
     Dosage: 500 MILLIGRAM
     Route: 065
  8. METFORMIN [Suspect]
     Active Substance: METFORMIN HYDROCHLORIDE
     Dosage: 1000 MILLIGRAM, QD (500 MILLIGRAM, 2 DOSE PER 1 D)
     Route: 065
  9. BUDESONIDE [Suspect]
     Active Substance: BUDESONIDE
     Indication: Colitis ulcerative
     Dosage: UNK
     Route: 048
  10. BUDESONIDE [Suspect]
     Active Substance: BUDESONIDE
     Dosage: 8 DOSAGE FORM, Q8WEEKS
     Route: 048
     Dates: start: 201707
  11. BUDESONIDE [Suspect]
     Active Substance: BUDESONIDE
     Dosage: 8 DOSAGE FORM, Q8WEEKS
     Route: 048
     Dates: start: 200707
  12. BUDESONIDE [Suspect]
     Active Substance: BUDESONIDE
     Dosage: 1 DOSAGE FORM, QD
     Route: 048
     Dates: start: 201707
  13. BUDESONIDE [Suspect]
     Active Substance: BUDESONIDE
     Dosage: 1 DOSAGE FORM, Q8WEEKS
     Route: 048
  14. BUDESONIDE [Suspect]
     Active Substance: BUDESONIDE
     Dosage: 8 DOSAGE FORM, QD
     Route: 048
     Dates: start: 201707
  15. BUDESONIDE [Suspect]
     Active Substance: BUDESONIDE
     Dosage: 1 DOSAGE FORM, QD (1 EVERY 1 DAYS)
     Route: 048
  16. BUDESONIDE [Suspect]
     Active Substance: BUDESONIDE
     Dosage: 8 DOSAGE FORM, QD (1 EVERY 1 DAYS)
     Route: 048
  17. BUDESONIDE [Suspect]
     Active Substance: BUDESONIDE
     Dosage: UNK, QD (1 EVERY 1 DAYS)
     Route: 065
  18. BUDESONIDE [Suspect]
     Active Substance: BUDESONIDE
     Dosage: UNK, Q8WEEKS (1 EVERY 8 WEEKS)
     Route: 065
  19. BUDESONIDE [Suspect]
     Active Substance: BUDESONIDE
     Dosage: UNK
     Route: 065
  20. BUDESONIDE [Suspect]
     Active Substance: BUDESONIDE
     Dosage: 4 DOSAGE FORM
     Route: 065
  21. BUDESONIDE [Suspect]
     Active Substance: BUDESONIDE
     Dosage: UNK, QID
     Route: 065
  22. BUDESONIDE [Suspect]
     Active Substance: BUDESONIDE
     Dosage: 8 DOSAGE FORM, Q8WEEKS (1 EVERY 8 WEEKS)
     Route: 048
  23. BUDESONIDE [Suspect]
     Active Substance: BUDESONIDE
     Dosage: 8 DOSAGE FORM (1 EVERY 8 WEEKS)
     Route: 048
  24. BUDESONIDE [Suspect]
     Active Substance: BUDESONIDE
     Dosage: 1 DOSAGE FORM (1 EVERY 8 WEEKS)
     Route: 048
  25. BUDESONIDE [Suspect]
     Active Substance: BUDESONIDE
     Dosage: UNK, QID
     Route: 048
  26. BUDESONIDE [Suspect]
     Active Substance: BUDESONIDE
     Dosage: 4 DOSAGE FORM
     Route: 048
  27. BUDESONIDE [Suspect]
     Active Substance: BUDESONIDE
     Dosage: UNK, Q8W
     Route: 048
  28. BUDESONIDE [Suspect]
     Active Substance: BUDESONIDE
     Dosage: 4 DOSAGE FORM, QD (1 DOSAGE FORM, QD)
     Route: 048
     Dates: start: 201707
  29. BUDESONIDE [Suspect]
     Active Substance: BUDESONIDE
     Dosage: 8 DOSAGE FORM (Q8WK)
     Route: 048
     Dates: start: 201707
  30. BUDESONIDE [Suspect]
     Active Substance: BUDESONIDE
     Indication: Colitis ulcerative
     Dosage: 8 DOSAGE FORM, Q8WEEKS (1 EVERY 8 WEEKS)
     Route: 048
     Dates: start: 200707
  31. BUDESONIDE [Suspect]
     Active Substance: BUDESONIDE
     Dosage: 1 DOSAGE FORM, QD
     Route: 048
     Dates: start: 201707
  32. BUDESONIDE [Suspect]
     Active Substance: BUDESONIDE
     Dosage: 8 DOSAGE FORM, Q8WEEKS
     Route: 048
     Dates: start: 201707
  33. BUDESONIDE [Suspect]
     Active Substance: BUDESONIDE
     Dosage: 8 DOSAGE FORM, QD
     Route: 048
     Dates: start: 201707
  34. BUDESONIDE [Suspect]
     Active Substance: BUDESONIDE
     Dosage: 1 DOSAGE FORM, Q8WEEKS (1 EVERY 8 WEEKS)
     Route: 048
  35. BUDESONIDE [Suspect]
     Active Substance: BUDESONIDE
     Dosage: 245 DOSAGE FORM, QD
     Route: 048
  36. BUDESONIDE [Suspect]
     Active Substance: BUDESONIDE
     Dosage: 212 DOSAGE FORM, QD
     Route: 048
  37. BUDESONIDE [Suspect]
     Active Substance: BUDESONIDE
     Dosage: 4 DOSAGE FORM, QD
     Route: 048
     Dates: start: 201707
  38. BUDESONIDE [Suspect]
     Active Substance: BUDESONIDE
     Dosage: 4 DOSAGE FORM (1 EVERY 8 WEEKS)
     Route: 048
  39. MESALAMINE [Suspect]
     Active Substance: MESALAMINE
     Indication: Colitis ulcerative
     Dosage: 4.8 GRAM, QD (0.8 G, 3 TABLETS TWO TIMES A DAY (4.8 G DAILY,  01-OCT-2016)
     Route: 065
  40. MESALAMINE [Suspect]
     Active Substance: MESALAMINE
     Dosage: 3 DOSAGE FORM, BID (Q12H)
     Route: 065
     Dates: start: 20161001
  41. MESALAMINE [Suspect]
     Active Substance: MESALAMINE
     Dosage: 2.4 GRAM, QD (1 EVERY 1 DAYS)
     Route: 065
     Dates: start: 20161001
  42. MESALAMINE [Suspect]
     Active Substance: MESALAMINE
     Dosage: 3 GRAM, QD (1 EVERY 1 DAYS)
     Route: 065
     Dates: start: 20161001
  43. MESALAMINE [Suspect]
     Active Substance: MESALAMINE
     Dosage: 3 DOSAGE FORM, BID
     Route: 065
     Dates: start: 201610
  44. MESALAMINE [Suspect]
     Active Substance: MESALAMINE
     Dosage: 6 DOSAGE FORM, QD
     Route: 065
     Dates: start: 20161001
  45. MESALAMINE [Suspect]
     Active Substance: MESALAMINE
     Dosage: 3 GRAM, BID
     Route: 065
     Dates: start: 20161001
  46. MESALAMINE [Suspect]
     Active Substance: MESALAMINE
     Dosage: 6 DOSAGE FORM, BID
     Route: 065
     Dates: start: 201610
  47. MESALAMINE [Suspect]
     Active Substance: MESALAMINE
     Dosage: 6 DOSAGE FORM, QD (3 DOSAGE FORM, BID)
     Route: 065
     Dates: start: 20161001
  48. MESALAMINE [Suspect]
     Active Substance: MESALAMINE
     Dosage: 50 MILLIGRAM
     Route: 065
     Dates: start: 20170101, end: 20170901
  49. MESALAMINE [Suspect]
     Active Substance: MESALAMINE
     Dosage: 3 DOSAGE FORM, BID,3 DOSAGE FORM, Q12H
     Route: 065
     Dates: start: 20161001
  50. MESALAMINE [Suspect]
     Active Substance: MESALAMINE
     Dosage: 3 GRAM
     Route: 065
     Dates: start: 201610
  51. MESALAMINE [Suspect]
     Active Substance: MESALAMINE
     Dosage: 1 DOSAGE FORM
     Route: 065
     Dates: start: 201707
  52. MESALAMINE [Suspect]
     Active Substance: MESALAMINE
     Dosage: 4.8 GRAM, QD
     Route: 065
     Dates: start: 20161001
  53. MESALAMINE [Suspect]
     Active Substance: MESALAMINE
     Dosage: UNK UNK, QD
     Route: 065
  54. MESALAMINE [Suspect]
     Active Substance: MESALAMINE
     Indication: Colitis ulcerative
     Dosage: 3 DOSAGE FORM, BID (0.8 G, 3 TABLETS TWO TIMES A DAY (4.8 G DAILY)
     Route: 065
     Dates: start: 201610
  55. MESALAMINE [Suspect]
     Active Substance: MESALAMINE
     Dosage: 8 DOSAGE FORM, QD
     Route: 065
     Dates: start: 201707
  56. MESALAMINE [Suspect]
     Active Substance: MESALAMINE
     Dosage: 3 GRAM, QD
     Route: 065
     Dates: start: 20161001
  57. MESALAMINE [Suspect]
     Active Substance: MESALAMINE
     Dosage: 4.8 GRAM, QD
     Route: 065
     Dates: start: 20161001
  58. MESALAMINE [Suspect]
     Active Substance: MESALAMINE
     Dosage: 6 DOSAGE FORM, BID (2 EVERY 1 DAYS)
     Route: 065
     Dates: start: 20161001
  59. MESALAMINE [Suspect]
     Active Substance: MESALAMINE
     Dosage: 6 DOSAGE FORM, QD
     Route: 065
     Dates: start: 20161001
  60. MESALAMINE [Suspect]
     Active Substance: MESALAMINE
     Dosage: 2.4 GRAM, QD
     Route: 065
     Dates: start: 20161001
  61. MESALAMINE [Suspect]
     Active Substance: MESALAMINE
     Dosage: 3 DOSAGE FORM, BID
     Route: 065
     Dates: start: 201610
  62. MESALAMINE [Suspect]
     Active Substance: MESALAMINE
     Dosage: 2.4 GRAM, QD (1 DOSAGE FORM)
     Route: 065
     Dates: start: 201707
  63. MESALAMINE [Suspect]
     Active Substance: MESALAMINE
     Indication: Product used for unknown indication
     Dosage: 6 DOSAGE FORM, QD
     Route: 065
     Dates: start: 201610
  64. BUDESONIDE [Suspect]
     Active Substance: BUDESONIDE
     Indication: Colitis ulcerative
     Dosage: UNK
     Route: 048
  65. BUDESONIDE [Suspect]
     Active Substance: BUDESONIDE
     Dosage: 8 DOSAGE FORM Q8WEEKS
     Route: 048
     Dates: start: 200707
  66. BUDESONIDE [Suspect]
     Active Substance: BUDESONIDE
     Dosage: 1 DOSAGE FORM, QD
     Route: 048
     Dates: start: 20170701
  67. BUDESONIDE [Suspect]
     Active Substance: BUDESONIDE
     Dosage: UNK(TABLET EVERY 8WEEKS)
     Route: 048
  68. BUDESONIDE [Suspect]
     Active Substance: BUDESONIDE
     Dosage: 1 DOSAGE FORM, QD
     Route: 048
     Dates: start: 201707
  69. BUDESONIDE [Suspect]
     Active Substance: BUDESONIDE
     Dosage: UNK UNK, Q8WK
     Route: 048
     Dates: start: 201707
  70. BUDESONIDE [Suspect]
     Active Substance: BUDESONIDE
     Dosage: 8 DOSAGE FORM
     Route: 048
     Dates: start: 201707
  71. BUDESONIDE [Suspect]
     Active Substance: BUDESONIDE
     Dosage: 1 DOSAGE FORM (Q8W)
     Route: 065
     Dates: start: 201707
  72. BUDESONIDE [Suspect]
     Active Substance: BUDESONIDE
     Dosage: UNK UNK, Q8WK
     Route: 048
     Dates: start: 200707
  73. MESALAMINE [Suspect]
     Active Substance: MESALAMINE
     Indication: Colitis ulcerative
     Dosage: UNK
     Route: 048
     Dates: start: 20160101, end: 201610
  74. MESALAMINE [Suspect]
     Active Substance: MESALAMINE
     Dosage: UNK
     Route: 048
     Dates: start: 201601, end: 201610
  75. MESALAMINE [Suspect]
     Active Substance: MESALAMINE
     Dosage: UNK
     Route: 048
     Dates: start: 20160101, end: 201610
  76. MESALAMINE [Suspect]
     Active Substance: MESALAMINE
     Dosage: 50 MILLIGRAM
     Route: 065
     Dates: start: 20160101, end: 20161001
  77. MESALAMINE [Suspect]
     Active Substance: MESALAMINE
     Dosage: 6 DOSAGE FORM, QD (BID)
     Route: 065
     Dates: start: 201610
  78. MESALAMINE [Suspect]
     Active Substance: MESALAMINE
     Dosage: 6 DOSAGE FORM, QD
     Route: 065
     Dates: start: 20161001
  79. MESALAMINE [Suspect]
     Active Substance: MESALAMINE
     Dosage: 8 DOSAGE FORM, Q8WEEKS
     Route: 065
     Dates: start: 201707
  80. MESALAMINE [Suspect]
     Active Substance: MESALAMINE
     Dosage: UNK
     Route: 065
     Dates: start: 201709, end: 201709
  81. MESALAMINE [Suspect]
     Active Substance: MESALAMINE
     Dosage: UNK, (QD)
     Route: 065
     Dates: start: 2017, end: 201709
  82. MESALAMINE [Suspect]
     Active Substance: MESALAMINE
     Dosage: 4.8 GRAM, QD
     Route: 065
     Dates: start: 20170101
  83. MESALAMINE [Suspect]
     Active Substance: MESALAMINE
     Dosage: 50 MILLIGRAM
     Route: 065
     Dates: start: 20170101, end: 20170901
  84. MESALAMINE [Suspect]
     Active Substance: MESALAMINE
     Dosage: 2.4 GRAM, QD
     Route: 065
     Dates: start: 20161001
  85. MESALAMINE [Suspect]
     Active Substance: MESALAMINE
     Dosage: 50 MILLIGRAM
     Route: 065
     Dates: start: 2009
  86. MESALAMINE [Suspect]
     Active Substance: MESALAMINE
     Dosage: 4.8 GRAM, QD
     Route: 065
     Dates: start: 20161001
  87. MESALAMINE [Suspect]
     Active Substance: MESALAMINE
     Dosage: UNK
     Route: 065
     Dates: start: 20170101, end: 20170901
  88. MESALAMINE [Suspect]
     Active Substance: MESALAMINE
     Dosage: UNK
     Route: 065
  89. MESALAMINE [Suspect]
     Active Substance: MESALAMINE
     Dosage: 2.4 GRAM
     Route: 065
     Dates: start: 201601, end: 201610
  90. MESALAMINE [Suspect]
     Active Substance: MESALAMINE
     Dosage: UNK
     Route: 065
     Dates: start: 202109, end: 202109
  91. MESALAMINE [Suspect]
     Active Substance: MESALAMINE
     Dosage: 8 DOSAGE FORM, Q8WEEKS
     Route: 048
     Dates: start: 201706
  92. MESALAMINE [Suspect]
     Active Substance: MESALAMINE
     Dosage: UNK
     Route: 048
     Dates: start: 20160101, end: 201610
  93. MESALAMINE [Suspect]
     Active Substance: MESALAMINE
     Dosage: UNK
     Route: 048
     Dates: start: 20160101, end: 20161001
  94. MESALAMINE [Suspect]
     Active Substance: MESALAMINE
     Dosage: UNK
     Route: 065
     Dates: start: 2017, end: 201709
  95. MESALAMINE [Suspect]
     Active Substance: MESALAMINE
     Indication: Colitis ulcerative
     Dosage: UNK
     Route: 065
  96. MESALAMINE [Suspect]
     Active Substance: MESALAMINE
     Dosage: UNK
     Route: 048
  97. MESALAMINE [Suspect]
     Active Substance: MESALAMINE
     Indication: Colitis ulcerative
     Dosage: 50 MILLIGRAM
     Route: 065
     Dates: start: 2009
  98. MESALAMINE [Suspect]
     Active Substance: MESALAMINE
     Dosage: UNK
     Route: 048
     Dates: start: 20160101, end: 20161001
  99. MESALAMINE [Suspect]
     Active Substance: MESALAMINE
     Dosage: UNK
     Route: 065
     Dates: start: 20170101, end: 20170901
  100. MESALAMINE [Suspect]
     Active Substance: MESALAMINE
     Dosage: 50 MILLIGRAM
     Route: 048
     Dates: start: 20160101, end: 20161001
  101. MESALAMINE [Suspect]
     Active Substance: MESALAMINE
     Dosage: 50 MILLIGRAM
     Route: 048
     Dates: start: 20170101, end: 20170901
  102. MESALAMINE [Suspect]
     Active Substance: MESALAMINE
     Dosage: UNK
     Route: 065
     Dates: start: 201709, end: 201709
  103. MESALAMINE [Suspect]
     Active Substance: MESALAMINE
     Dosage: 4.8 MILLIGRAM, QD
     Route: 065
     Dates: start: 20170101
  104. MESALAMINE [Suspect]
     Active Substance: MESALAMINE
     Dosage: 3 DOSAGE FORM, BID
     Route: 065
     Dates: start: 201610
  105. MESALAMINE [Suspect]
     Active Substance: MESALAMINE
     Dosage: UNK
     Route: 065
     Dates: start: 2017, end: 201709
  106. MESALAMINE [Suspect]
     Active Substance: MESALAMINE
     Dosage: 6 DOSAGE FORM, QD
     Route: 065
     Dates: start: 20161001
  107. MESALAMINE [Suspect]
     Active Substance: MESALAMINE
     Dosage: UNK
     Route: 065
     Dates: start: 201709, end: 201709
  108. MESALAMINE [Suspect]
     Active Substance: MESALAMINE
     Dosage: 2.4 GRAM, QD
     Route: 065
     Dates: start: 20161001
  109. MESALAMINE [Suspect]
     Active Substance: MESALAMINE
     Dosage: 4.8 MILLIGRAM, QD
     Route: 065
     Dates: start: 20161001
  110. MESALAMINE [Suspect]
     Active Substance: MESALAMINE
     Dosage: UNK
     Route: 065
     Dates: start: 202109, end: 202109
  111. MESALAMINE [Suspect]
     Active Substance: MESALAMINE
     Dosage: 8 DOSAGE FORM, Q8WEEKS
     Route: 065
     Dates: start: 201707
  112. MESALAMINE [Suspect]
     Active Substance: MESALAMINE
     Dosage: 50 MILLIGRAM
     Route: 065
     Dates: start: 20170901, end: 2019
  113. MESALAMINE [Suspect]
     Active Substance: MESALAMINE
     Dosage: 6 DOSAGE FORM, QD(3 DOSAGE FORM, BID )
     Route: 065
     Dates: start: 201610
  114. MESALAMINE [Suspect]
     Active Substance: MESALAMINE
     Dosage: 2.4 GRAM, QD (0.8 G, 3 TABLETS TWO TIMES A DAY (4.8 G DAILY))
     Route: 065
     Dates: start: 20161001
  115. MESALAMINE [Suspect]
     Active Substance: MESALAMINE
     Dosage: UNK
     Route: 065
     Dates: start: 201601, end: 201610
  116. MESALAMINE [Suspect]
     Active Substance: MESALAMINE
     Dosage: 8 DOSAGE FORM,  Q8WEEKS
     Route: 065
     Dates: start: 201707
  117. MESALAMINE [Suspect]
     Active Substance: MESALAMINE
     Dosage: 3 DOSAGE FORM, BID
     Route: 065
     Dates: start: 201601
  118. MESALAMINE [Suspect]
     Active Substance: MESALAMINE
     Dosage: UNK
     Route: 065
     Dates: start: 20170101, end: 20171001
  119. MESALAMINE [Suspect]
     Active Substance: MESALAMINE
     Dosage: UNK
     Route: 065
     Dates: start: 2017, end: 201709
  120. MESALAMINE [Suspect]
     Active Substance: MESALAMINE
     Dosage: 6 DOSAGE FORM, QD
     Route: 065
     Dates: start: 20161001
  121. MESALAMINE [Suspect]
     Active Substance: MESALAMINE
     Dosage: 8 DOSAGE FORM
     Route: 048
     Dates: start: 201706
  122. MESALAMINE [Suspect]
     Active Substance: MESALAMINE
     Dosage: 3 GRAM, QD
     Route: 065
     Dates: start: 20160110
  123. MESALAMINE [Suspect]
     Active Substance: MESALAMINE
     Dosage: UNK
     Route: 065
     Dates: start: 20170101, end: 20171001
  124. MESALAMINE [Suspect]
     Active Substance: MESALAMINE
     Dosage: 4.8 GRAM, QD
     Route: 065
     Dates: start: 20161001
  125. MESALAMINE [Suspect]
     Active Substance: MESALAMINE
     Dosage: 6 DOSAGE FORM, QD (3 DOSAGE FORM, BID)
     Route: 065
     Dates: start: 2016
  126. MESALAMINE [Suspect]
     Active Substance: MESALAMINE
     Dosage: UNK
     Route: 065
     Dates: start: 2017, end: 201709
  127. MESALAMINE [Suspect]
     Active Substance: MESALAMINE
     Dosage: 4.8 GRAM, QD
     Route: 065
     Dates: start: 20161001
  128. MESALAMINE [Suspect]
     Active Substance: MESALAMINE
     Dosage: UNK
     Route: 065
     Dates: start: 201707, end: 201709
  129. MESALAMINE [Suspect]
     Active Substance: MESALAMINE
     Dosage: 1 DOSAGE FORM, QD
     Route: 065
     Dates: start: 201707
  130. MESALAMINE [Suspect]
     Active Substance: MESALAMINE
     Dosage: UNK
     Route: 065
  131. MESALAMINE [Suspect]
     Active Substance: MESALAMINE
     Indication: Colitis ulcerative
     Dosage: UNK
     Route: 042
     Dates: start: 2017, end: 2017
  132. MESALAMINE [Suspect]
     Active Substance: MESALAMINE
     Dosage: UNK
     Route: 048
     Dates: start: 20160101
  133. MESALAMINE [Suspect]
     Active Substance: MESALAMINE
     Dosage: UNK
     Route: 048
     Dates: start: 20160101, end: 20161001
  134. MESALAMINE [Suspect]
     Active Substance: MESALAMINE
     Dosage: UNK
     Route: 048
     Dates: start: 20160101, end: 201610
  135. MESALAMINE [Suspect]
     Active Substance: MESALAMINE
     Dosage: 2.4 GRAM
     Route: 048
     Dates: start: 201601, end: 201610
  136. BUDESONIDE [Suspect]
     Active Substance: BUDESONIDE
     Indication: Colitis ulcerative
     Dosage: 1 DOSAGE FORM, QD
     Route: 048
     Dates: start: 201707, end: 201707
  137. BUDESONIDE [Suspect]
     Active Substance: BUDESONIDE
     Dosage: 8 DOSAGE FORM
     Route: 048
     Dates: start: 200707
  138. BUDESONIDE [Suspect]
     Active Substance: BUDESONIDE
     Dosage: UNK UNK, Q8WEEKS
     Route: 048
     Dates: start: 201707
  139. BUDESONIDE [Suspect]
     Active Substance: BUDESONIDE
     Dosage: 8 DOSAGE FORM, Q8WEEKS
     Route: 048
     Dates: start: 201707
  140. BUDESONIDE [Suspect]
     Active Substance: BUDESONIDE
     Dosage: 1 DOSAGE FORM, QD
     Route: 048
     Dates: start: 20170701
  141. BUDESONIDE [Suspect]
     Active Substance: BUDESONIDE
     Dosage: UNK
     Route: 048
  142. BUDESONIDE [Suspect]
     Active Substance: BUDESONIDE
     Dosage: 8 DOSAGE FORM
     Route: 048
     Dates: start: 201707
  143. BUDESONIDE [Suspect]
     Active Substance: BUDESONIDE
     Dosage: UNK UNK, Q8WEEKS
     Route: 048
  144. ASPIRIN [Suspect]
     Active Substance: ASPIRIN
     Indication: Ill-defined disorder
     Dosage: UNK
     Route: 048
     Dates: start: 200707
  145. ASPIRIN [Suspect]
     Active Substance: ASPIRIN
     Indication: Colitis ulcerative
     Dosage: UNK
     Route: 065
  146. ROSUVASTATIN CALCIUM [Suspect]
     Active Substance: ROSUVASTATIN CALCIUM
     Indication: Blood cholesterol increased
     Dosage: 10 MILLIGRAM, QD (1 EVERY 1 DAYS)
     Route: 065
  147. ROSUVASTATIN CALCIUM [Suspect]
     Active Substance: ROSUVASTATIN CALCIUM
     Indication: Ill-defined disorder
  148. ROSUVASTATIN CALCIUM [Suspect]
     Active Substance: ROSUVASTATIN CALCIUM
     Indication: Ill-defined disorder
     Dosage: 10 MILLIGRAM
     Route: 065
  149. ROSUVASTATIN CALCIUM [Suspect]
     Active Substance: ROSUVASTATIN CALCIUM
     Indication: Blood cholesterol increased
     Dosage: 10 MILLIGRAM, QD (1 EVERY 1 DAYS)
     Route: 065
  150. ROSUVASTATIN CALCIUM [Suspect]
     Active Substance: ROSUVASTATIN CALCIUM
     Dosage: UNK
     Route: 065
  151. ROSUVASTATIN CALCIUM [Suspect]
     Active Substance: ROSUVASTATIN CALCIUM
     Dosage: UNK
     Route: 065
  152. MESALAMINE [Suspect]
     Active Substance: MESALAMINE
     Indication: Colitis ulcerative
     Dosage: UNK
     Route: 065
  153. MESALAMINE [Suspect]
     Active Substance: MESALAMINE
     Dosage: UNK
     Route: 065
  154. MESALAMINE [Suspect]
     Active Substance: MESALAMINE
     Dosage: UNK
     Route: 065
     Dates: start: 20160101, end: 20161001
  155. MESALAMINE [Suspect]
     Active Substance: MESALAMINE
     Dosage: 50 MILLIGRAM
     Route: 065
  156. MESALAMINE [Suspect]
     Active Substance: MESALAMINE
     Dosage: UNK
     Route: 065
  157. MESALAMINE [Suspect]
     Active Substance: MESALAMINE
     Dosage: UNK, QD (1 EVERY1 DAYS)
     Route: 065
  158. MESALAMINE [Suspect]
     Active Substance: MESALAMINE
     Dosage: UNK
     Route: 065
  159. MESALAMINE [Suspect]
     Active Substance: MESALAMINE
     Dosage: 8 DOSAGE FORM (1 EVERY 8 WEEKS)
     Route: 065
  160. MESALAMINE [Suspect]
     Active Substance: MESALAMINE
     Dosage: UNK
     Route: 065
  161. MESALAMINE [Suspect]
     Active Substance: MESALAMINE
     Dosage: UNK
     Route: 048
  162. MESALAMINE [Suspect]
     Active Substance: MESALAMINE
     Dosage: 6 DOSAGE FORM, QD (1 EVERY 1 DAYS)
     Route: 048
  163. MESALAMINE [Suspect]
     Active Substance: MESALAMINE
     Dosage: 3 GRAM, QD (1 EVERY 1 DAYS)
     Route: 065
  164. MESALAMINE [Suspect]
     Active Substance: MESALAMINE
     Dosage: 2.4 GRAM, QD QD (1 EVERY 1 DAYS)
     Route: 065
  165. MESALAMINE [Suspect]
     Active Substance: MESALAMINE
     Dosage: 2.4 GRAM, QD QD (1 EVERY 1 DAYS)
     Route: 065
  166. MESALAMINE [Suspect]
     Active Substance: MESALAMINE
     Dosage: 6 DOSAGE FORM, QD (3 DOSAGE FORM, 2 EVERY 1 DAYS)
     Route: 065
  167. MESALAMINE [Suspect]
     Active Substance: MESALAMINE
     Dosage: UNK
     Route: 048
  168. MESALAMINE [Suspect]
     Active Substance: MESALAMINE
     Dosage: 1 DOSAGE FORM, QD (1 EVERY 1 DAYS)
     Route: 048
  169. MESALAMINE [Suspect]
     Active Substance: MESALAMINE
     Dosage: 4.8 MILLIGRAM, QD QD (1 EVERY 1 DAYS)
     Route: 065
  170. MESALAMINE [Suspect]
     Active Substance: MESALAMINE
     Dosage: 8 DOSAGE FORM (1 EVERY 8 WEEKS)
     Route: 048
  171. MESALAMINE [Suspect]
     Active Substance: MESALAMINE
     Dosage: 50 MILLIGRAM
     Route: 065
  172. MESALAMINE [Suspect]
     Active Substance: MESALAMINE
     Dosage: 50 MILLIGRAM
     Route: 065
  173. MESALAMINE [Suspect]
     Active Substance: MESALAMINE
     Dosage: 3 DOSAGE FORM, BID (2 EVERY 1 DAYS)
     Route: 065
  174. MESALAMINE [Suspect]
     Active Substance: MESALAMINE
     Indication: Colitis ulcerative
     Dosage: 3 GRAM, BID (EVERY 12 HOURS)
     Route: 065
  175. MESALAMINE [Suspect]
     Active Substance: MESALAMINE
     Dosage: 3 GRAM
     Route: 065
  176. MESALAMINE [Suspect]
     Active Substance: MESALAMINE
     Dosage: 1 DOSAGE FORM, QD (1 EVERY 1 DAYS)
     Route: 065
  177. MESALAMINE [Suspect]
     Active Substance: MESALAMINE
     Dosage: 12 DOSAGE FORM, QD (1 EVERY 1 DAYS)
     Route: 065
  178. MESALAMINE [Suspect]
     Active Substance: MESALAMINE
     Dosage: 50 MILLIGRAM
     Route: 065
  179. MESALAMINE [Suspect]
     Active Substance: MESALAMINE
     Dosage: 4.8 DOSAGE FORM, QD  (1 EVERY 1 DAYS)
     Route: 065
  180. MESALAMINE [Suspect]
     Active Substance: MESALAMINE
     Dosage: 4.8 DOSAGE FORM, QD  (1 EVERY 1 DAYS)
     Route: 065
     Dates: start: 20161001
  181. MESALAMINE [Suspect]
     Active Substance: MESALAMINE
     Dosage: 6 DOSAGE FORM, QD (1 EVERY 1 DAYS)
     Route: 065
  182. MESALAMINE [Suspect]
     Active Substance: MESALAMINE
     Dosage: 3 GRAM, BID (2 EVERY 1 DAYS)
     Route: 065
  183. MESALAMINE [Suspect]
     Active Substance: MESALAMINE
     Dosage: 1 DOSAGE FORM, QD (1 EVERY 1 DAYS)
     Route: 048
  184. MESALAMINE [Suspect]
     Active Substance: MESALAMINE
     Dosage: 6 DOSAGE FORM, QD (3 GRAM, EVERY 12 HOURS)
     Route: 065
  185. MESALAMINE [Suspect]
     Active Substance: MESALAMINE
     Dosage: UNK
     Route: 065
  186. MESALAMINE [Suspect]
     Active Substance: MESALAMINE
     Dosage: 6 DOSAGE FORM, QD (3 DOSAGE FORM, Q12H)
     Route: 065
     Dates: start: 20161001
  187. MESALAMINE [Suspect]
     Active Substance: MESALAMINE
     Dosage: 12 DOSAGE FORM, QD (6.0 DOSAGE FORM, 2 EVERY 1 DAYS)
     Route: 065
     Dates: start: 20161001
  188. MESALAMINE [Suspect]
     Active Substance: MESALAMINE
     Dosage: 1 DOSAGE FORM, QD (6.0 DOSAGE FORM, 1 EVERY 1 DAYS)
     Route: 065
  189. MESALAMINE [Suspect]
     Active Substance: MESALAMINE
     Dosage: 6 GRAM, QD (3 GRAM, 2 EVERY 1 DAYS)
     Route: 065
  190. ROSUVASTATIN CALCIUM [Suspect]
     Active Substance: ROSUVASTATIN CALCIUM
     Indication: Ill-defined disorder
     Dosage: 10 MILLIGRAM
     Route: 065
  191. ROSUVASTATIN CALCIUM [Suspect]
     Active Substance: ROSUVASTATIN CALCIUM
     Indication: Blood cholesterol increased
     Dosage: UNK
     Route: 065
  192. ROSUVASTATIN CALCIUM [Suspect]
     Active Substance: ROSUVASTATIN CALCIUM
     Dosage: 10 MILLIGRAM, QD (1 EVERY 1 DAYS)
     Route: 065
  193. ROSUVASTATIN CALCIUM [Suspect]
     Active Substance: ROSUVASTATIN CALCIUM
     Dosage: UNK
     Route: 065
  194. EPINEPHRINE [Suspect]
     Active Substance: EPINEPHRINE
     Indication: Product used for unknown indication
     Dosage: UNK
     Route: 065
  195. ASPIRIN [Suspect]
     Active Substance: ASPIRIN
     Indication: Product used for unknown indication
     Dosage: UNK
     Route: 065
  196. ADALIMUMAB [Suspect]
     Active Substance: ADALIMUMAB
     Indication: Crohn^s disease
     Dosage: UNK
     Route: 065
  197. ADALIMUMAB [Suspect]
     Active Substance: ADALIMUMAB
     Indication: Deep vein thrombosis
     Dosage: 8 DOSAGE FORM
     Route: 058
     Dates: start: 201709
  198. ADALIMUMAB [Suspect]
     Active Substance: ADALIMUMAB
     Indication: Colitis ulcerative
     Dosage: UNK
     Route: 065
     Dates: start: 201707
  199. ADALIMUMAB [Suspect]
     Active Substance: ADALIMUMAB
     Dosage: 5 MILLIGRAM/KILOGRAM, Q8WEEK
     Route: 042
     Dates: start: 20171019
  200. ESOMEPRAZOLE [Suspect]
     Active Substance: ESOMEPRAZOLE
     Indication: Gastritis
     Dosage: UNK
     Route: 065
  201. WARFARIN [Suspect]
     Active Substance: WARFARIN
     Indication: Deep vein thrombosis
     Dosage: UNK
     Route: 065
     Dates: start: 2024
  202. WARFARIN [Suspect]
     Active Substance: WARFARIN
     Indication: Colitis ulcerative
     Dosage: UNK (TAPERED DOSE IN 2009 (EXACT DOSE UNKNOWN))
     Route: 065
     Dates: end: 2019
  203. WARFARIN [Suspect]
     Active Substance: WARFARIN
     Indication: Crohn^s disease
     Dosage: UNK
     Route: 048
     Dates: end: 2009
  204. WARFARIN [Suspect]
     Active Substance: WARFARIN
     Dosage: UNK
     Route: 065
     Dates: start: 2019
  205. WARFARIN [Suspect]
     Active Substance: WARFARIN
     Dosage: 1 DOSAGE FORM, QD
     Route: 048
     Dates: start: 201707
  206. WARFARIN [Suspect]
     Active Substance: WARFARIN
     Dosage: 8 DOSAGE FORM, Q8WEEKS
     Route: 048
     Dates: start: 201707
  207. WARFARIN [Suspect]
     Active Substance: WARFARIN
     Dosage: UNK
     Route: 065
     Dates: end: 2019
  208. WARFARIN [Suspect]
     Active Substance: WARFARIN
     Dosage: UNK
     Route: 065
     Dates: start: 2009
  209. WARFARIN [Suspect]
     Active Substance: WARFARIN
     Dosage: UNK
     Route: 048
     Dates: start: 2009, end: 2009
  210. WARFARIN [Suspect]
     Active Substance: WARFARIN
     Dosage: UNK (TAPERED DOSE IN 2009 (EXACT DOSE UNKNOWN))
     Route: 065
     Dates: end: 2009
  211. WARFARIN [Suspect]
     Active Substance: WARFARIN
     Dosage: UNK
     Route: 065
     Dates: start: 2009, end: 2009
  212. WARFARIN [Suspect]
     Active Substance: WARFARIN
     Dosage: UNK
     Route: 048
     Dates: end: 2009
  213. WARFARIN [Suspect]
     Active Substance: WARFARIN
     Dosage: UNK
     Route: 065
     Dates: start: 201707
  214. FELODIPINE [Suspect]
     Active Substance: FELODIPINE
     Indication: Hypertension
     Dosage: 3 MILLIGRAM, QD
     Route: 048
  215. FELODIPINE [Suspect]
     Active Substance: FELODIPINE
     Dosage: 5 MILLIGRAM, QD (2.5 MILLIGRAM, 2 DOSE PER 1 D )
     Route: 048
  216. FELODIPINE [Suspect]
     Active Substance: FELODIPINE
     Dosage: 2.5 MILLIGRAM
     Route: 048
  217. HYDROCORTISONE [Suspect]
     Active Substance: HYDROCORTISONE
     Indication: Colitis ulcerative
     Dosage: 1 DOSAGE FORM, QD
     Route: 048
     Dates: start: 201807, end: 201807
  218. HYDROCORTISONE [Suspect]
     Active Substance: HYDROCORTISONE
     Dosage: UNK, (QD)
     Route: 048
  219. HYDROCORTISONE [Suspect]
     Active Substance: HYDROCORTISONE
     Dosage: 8 DOSAGE FORM, QD
     Route: 048
     Dates: start: 201807
  220. HYDROCORTISONE [Suspect]
     Active Substance: HYDROCORTISONE
     Dosage: 8 DOSAGE FORM, Q8WEEKS
     Route: 048
     Dates: start: 201807
  221. HYDROCORTISONE [Suspect]
     Active Substance: HYDROCORTISONE
     Dosage: 8 DOSAGE FORM, Q8WEEKS
     Route: 048
     Dates: start: 201707
  222. HYDROCORTISONE [Suspect]
     Active Substance: HYDROCORTISONE
     Dosage: 1 DOSAGE FORM, QD (1 EVERY 1 DAYS)
     Route: 048
  223. HYDROCORTISONE [Suspect]
     Active Substance: HYDROCORTISONE
     Dosage: UNK, (Q8WEEKS)
     Route: 048
  224. HYDROCORTISONE [Suspect]
     Active Substance: HYDROCORTISONE
     Dosage: 8 DOSAGE FORM, QD
     Route: 048
     Dates: start: 201807
  225. HYDROCORTISONE [Suspect]
     Active Substance: HYDROCORTISONE
     Dosage: 8 DOSAGE FORM, Q8WEEKS
     Route: 065
  226. HYDROCORTISONE [Suspect]
     Active Substance: HYDROCORTISONE
     Dosage: 3 DOSAGE FORM, BID(6 DOSAGE FORM, QD)
     Route: 065
     Dates: start: 201610
  227. HYDROCORTISONE [Suspect]
     Active Substance: HYDROCORTISONE
     Dosage: 1 DOSAGE FORM, QD
     Route: 065
  228. HYDROCORTISONE [Suspect]
     Active Substance: HYDROCORTISONE
     Dosage: UNK (40/0.8 MG/ML)
     Route: 065
  229. HYDROCORTISONE [Suspect]
     Active Substance: HYDROCORTISONE
     Dosage: 1 DOSAGE FORM, QD
     Route: 048
     Dates: start: 201807
  230. HYDROCORTISONE [Suspect]
     Active Substance: HYDROCORTISONE
     Dosage: 8 DOSAGE FORM (1 EVERY 8 WEEKS)
     Route: 048
  231. HYDROCORTISONE [Suspect]
     Active Substance: HYDROCORTISONE
     Dosage: 8 DOSAGE FORM, QD (1 EVERY 1 DAYS)
     Route: 048
  232. HYDROCORTISONE [Suspect]
     Active Substance: HYDROCORTISONE
     Dosage: 4 DOSAGE FORM
     Route: 065
  233. HYDROCORTISONE [Suspect]
     Active Substance: HYDROCORTISONE
     Dosage: 3 DOSAGE FORM, BID (2 EVERY 1 DAYS)
     Route: 065
  234. HYDROCORTISONE [Suspect]
     Active Substance: HYDROCORTISONE
     Dosage: 1 DOSAGE FORM (1 EVERY 8 WEEKS)
     Route: 065
  235. HYDROCORTISONE [Suspect]
     Active Substance: HYDROCORTISONE
     Dosage: UNK
     Route: 065
  236. HYDROCORTISONE [Suspect]
     Active Substance: HYDROCORTISONE
     Dosage: 4 DOSAGE FORM, QD (1 DOSAGE FORM, QD)
     Route: 048
     Dates: start: 201807
  237. CORTIFOAM [Suspect]
     Active Substance: HYDROCORTISONE ACETATE
     Indication: Colitis ulcerative
     Dosage: 1 DOSAGE FORM
     Route: 065
     Dates: start: 201707
  238. CORTIFOAM [Suspect]
     Active Substance: HYDROCORTISONE ACETATE
     Indication: Deep vein thrombosis
  239. CORTIFOAM [Suspect]
     Active Substance: HYDROCORTISONE ACETATE
     Indication: Colitis ulcerative
     Dosage: UNK, Q8WEEKS
     Route: 048
  240. CORTIFOAM [Suspect]
     Active Substance: HYDROCORTISONE ACETATE
     Indication: Deep vein thrombosis
     Dosage: 8 DOSAGE FORM, Q8WK (1 EVERY 8 WEEKS)
     Route: 048
     Dates: start: 201707
  241. CORTIFOAM [Suspect]
     Active Substance: HYDROCORTISONE ACETATE
     Dosage: UNK
     Route: 065
  242. CORTIFOAM [Suspect]
     Active Substance: HYDROCORTISONE ACETATE
     Dosage: 1 DOSAGE FORM, QD
     Route: 048
     Dates: start: 201707
  243. CORTIFOAM [Suspect]
     Active Substance: HYDROCORTISONE ACETATE
     Dosage: 1 DOSAGE FORM, QD
     Route: 065
     Dates: start: 201707
  244. CORTIFOAM [Suspect]
     Active Substance: HYDROCORTISONE ACETATE
     Dosage: 1 DOSAGE FORM, QD (1 EVERY 1 DAYS)
     Route: 048
  245. CORTIFOAM [Suspect]
     Active Substance: HYDROCORTISONE ACETATE
     Dosage: 8 DOSAGE FORM
     Route: 048
  246. CORTIFOAM [Suspect]
     Active Substance: HYDROCORTISONE ACETATE
     Dosage: 1 DOSAGE FORM, QD (1 EVERY 1 DAYS)
     Route: 065
  247. CORTIFOAM [Suspect]
     Active Substance: HYDROCORTISONE ACETATE
     Dosage: UNK
     Route: 048
  248. CORTIFOAM [Suspect]
     Active Substance: HYDROCORTISONE ACETATE
     Dosage: 8 DOSAGE FORM, Q8WK (1 EVERY 8 WEEKS)
     Route: 065
  249. CORTIFOAM [Suspect]
     Active Substance: HYDROCORTISONE ACETATE
     Dosage: 8 DOSAGE FORM, Q8WK (1 EVERY 8 WEEKS)
     Route: 048
  250. CORTIFOAM [Suspect]
     Active Substance: HYDROCORTISONE ACETATE
     Dosage: 32 DOSAGE FORM, QD(8 DOSAGE FORM, Q8WK)
     Route: 048
     Dates: start: 201707
  251. CORTIFOAM [Suspect]
     Active Substance: HYDROCORTISONE ACETATE
     Dosage: 1 DOSAGE FORM (1 DOSAGE FORM 1 EVERY 8 WEEKS)
     Route: 048
     Dates: start: 201707
  252. HYDROCORTISONE ACETATE [Suspect]
     Active Substance: HYDROCORTISONE ACETATE
     Indication: Colitis ulcerative
     Dosage: 1 DOSAGE FORM, QD
     Route: 048
  253. HYDROCORTISONE ACETATE [Suspect]
     Active Substance: HYDROCORTISONE ACETATE
     Indication: Crohn^s disease
     Dosage: UNK, Q8WEEKS
     Route: 048
  254. HYDROCORTISONE ACETATE [Suspect]
     Active Substance: HYDROCORTISONE ACETATE
     Indication: Colitis ulcerative
     Dosage: 8 DOSAGE FORM, Q8WEEKS
     Route: 048
     Dates: start: 201707
  255. HYDROCORTISONE ACETATE [Suspect]
     Active Substance: HYDROCORTISONE ACETATE
     Dosage: 1 DOSAGE FORM
     Route: 048
     Dates: start: 201807
  256. HYDROCORTISONE ACETATE [Suspect]
     Active Substance: HYDROCORTISONE ACETATE
     Dosage: 8 DOSAGE FORM (EVERY 8 WEEK)
     Route: 048
     Dates: start: 201807
  257. HYDROCORTISONE ACETATE [Suspect]
     Active Substance: HYDROCORTISONE ACETATE
     Dosage: 8 DOSAGE FORM (EVERY 8 WEEK)
     Route: 048
  258. HYDROCORTISONE ACETATE [Suspect]
     Active Substance: HYDROCORTISONE ACETATE
     Dosage: UNK
     Route: 065
     Dates: start: 201601, end: 201610
  259. HYDROCORTISONE ACETATE [Suspect]
     Active Substance: HYDROCORTISONE ACETATE
     Dosage: 8 DOSAGE FORM, QD
     Route: 048
     Dates: start: 201707
  260. HYDROCORTISONE ACETATE [Suspect]
     Active Substance: HYDROCORTISONE ACETATE
     Dosage: 1 DOSAGE FORM, QD
     Route: 048
     Dates: start: 201707
  261. HYDROCORTISONE ACETATE [Suspect]
     Active Substance: HYDROCORTISONE ACETATE
     Dosage: UNK UNK, Q8WEEKS
     Route: 048
  262. HYDROCORTISONE ACETATE [Suspect]
     Active Substance: HYDROCORTISONE ACETATE
     Dosage: UNK, Q6WEEKS
     Route: 065
  263. HYDROCORTISONE ACETATE [Suspect]
     Active Substance: HYDROCORTISONE ACETATE
     Dosage: UNK, QD
     Route: 065
     Dates: start: 20160101, end: 20161001
  264. CORTIFOAM [Suspect]
     Active Substance: HYDROCORTISONE ACETATE
     Indication: Colitis ulcerative
     Dosage: UNK
     Route: 065
  265. CORTIFOAM [Suspect]
     Active Substance: HYDROCORTISONE ACETATE
     Indication: Deep vein thrombosis
     Dosage: 1 DOSAGE FORM
     Route: 048
     Dates: start: 201707
  266. CORTIFOAM [Suspect]
     Active Substance: HYDROCORTISONE ACETATE
     Dosage: 1 DOSAGE FORM, QD
     Route: 065
     Dates: start: 201707
  267. CORTIFOAM [Suspect]
     Active Substance: HYDROCORTISONE ACETATE
     Dosage: UNK
     Route: 065
  268. CORTIFOAM [Suspect]
     Active Substance: HYDROCORTISONE ACETATE
     Dosage: 1 DOSAGE FORM, QD
     Route: 048
     Dates: start: 201707
  269. CORTIFOAM [Suspect]
     Active Substance: HYDROCORTISONE ACETATE
     Dosage: UNK, Q8WEEKS
     Route: 065
  270. CORTIFOAM [Suspect]
     Active Substance: HYDROCORTISONE ACETATE
     Dosage: UNK
     Route: 065
  271. HYDROCORTISONE ACETATE [Suspect]
     Active Substance: HYDROCORTISONE ACETATE
     Indication: Product used for unknown indication
     Dosage: UNK
     Route: 042
  272. ALBENDAZOLE [Suspect]
     Active Substance: ALBENDAZOLE
     Indication: Colitis ulcerative
     Dosage: UNK
     Route: 042
     Dates: start: 2017, end: 2017
  273. ALBENDAZOLE [Suspect]
     Active Substance: ALBENDAZOLE
     Indication: Deep vein thrombosis
     Dosage: UNK
     Route: 042
     Dates: start: 2021
  274. ALBENDAZOLE [Suspect]
     Active Substance: ALBENDAZOLE
     Indication: Crohn^s disease
     Dosage: UNK
     Route: 042
  275. ENTYVIO [Suspect]
     Active Substance: VEDOLIZUMAB
     Indication: Colitis ulcerative
     Dosage: UNK
     Route: 042
     Dates: end: 2017
  276. ENTYVIO [Suspect]
     Active Substance: VEDOLIZUMAB
     Indication: Deep vein thrombosis
     Dosage: 200 UNK
     Route: 042
     Dates: start: 2017, end: 2017
  277. ENTYVIO [Suspect]
     Active Substance: VEDOLIZUMAB
     Dosage: UNK
     Route: 042
     Dates: start: 2017
  278. ENTYVIO [Suspect]
     Active Substance: VEDOLIZUMAB
     Dosage: UNK(DOSE FORM:200)
     Route: 042
     Dates: start: 2017, end: 2017
  279. ENTYVIO [Suspect]
     Active Substance: VEDOLIZUMAB
     Dosage: UNK
     Route: 065
  280. ENTYVIO [Suspect]
     Active Substance: VEDOLIZUMAB
     Dosage: UNK
     Route: 065
  281. ENTYVIO [Suspect]
     Active Substance: VEDOLIZUMAB
     Dosage: 8 DOSAGE FORM
     Route: 048
     Dates: start: 201807
  282. ENTYVIO [Suspect]
     Active Substance: VEDOLIZUMAB
     Dosage: UNK
     Route: 065
     Dates: start: 201707
  283. ENTYVIO [Suspect]
     Active Substance: VEDOLIZUMAB
     Dosage: UNK
     Route: 065
     Dates: start: 2017
  284. ENTYVIO [Suspect]
     Active Substance: VEDOLIZUMAB
     Indication: Colitis ulcerative
     Dosage: UNK, 200 UNK (START:2017)
     Route: 048
     Dates: start: 2017, end: 2017
  285. ENTYVIO [Suspect]
     Active Substance: VEDOLIZUMAB
     Indication: Deep vein thrombosis
     Dosage: UNK (POWDER FOR SOLUTION FOR INFUSION)
     Route: 048
     Dates: start: 2017, end: 2017
  286. ENTYVIO [Suspect]
     Active Substance: VEDOLIZUMAB
     Dosage: UNK, 200
     Route: 048
     Dates: start: 201707
  287. ENTYVIO [Suspect]
     Active Substance: VEDOLIZUMAB
     Dosage: 200 UNK
     Route: 048
     Dates: start: 2017, end: 2017
  288. ENTYVIO [Suspect]
     Active Substance: VEDOLIZUMAB
     Dosage: 200 UNK
     Route: 042
     Dates: start: 2017, end: 2017
  289. ENTYVIO [Suspect]
     Active Substance: VEDOLIZUMAB
     Dosage: 8 DOSAGE FORM (1 EVERY 8 WEEKS)
     Route: 048
  290. ENTYVIO [Suspect]
     Active Substance: VEDOLIZUMAB
     Dosage: UNK, QD (1 EVERY1 DAYS)
     Route: 065
  291. ENTYVIO [Suspect]
     Active Substance: VEDOLIZUMAB
     Dosage: UNK
     Route: 048
  292. ENTYVIO [Suspect]
     Active Substance: VEDOLIZUMAB
     Dosage: 50 MILLIGRAM
     Route: 065
  293. ENTYVIO [Suspect]
     Active Substance: VEDOLIZUMAB
     Dosage: 8 DOSAGE FORM (1 EVERY 8 WEEKS)
     Route: 065
  294. ENTYVIO [Suspect]
     Active Substance: VEDOLIZUMAB
     Dosage: 1 DOSAGE FORM, QD (1 EVERY 1 DAYS)
     Route: 048
  295. ENTYVIO [Suspect]
     Active Substance: VEDOLIZUMAB
     Dosage: 50 MILLIGRAM
     Route: 065
  296. ENTYVIO [Suspect]
     Active Substance: VEDOLIZUMAB
     Dosage: UNK
     Route: 065
  297. ENTYVIO [Suspect]
     Active Substance: VEDOLIZUMAB
     Dosage: 8 DOSAGE FORM
     Route: 042
  298. PREDNISONE [Suspect]
     Active Substance: PREDNISONE
     Indication: Colitis ulcerative
     Dosage: 50 MILLIGRAM
     Route: 065
  299. PREDNISONE [Suspect]
     Active Substance: PREDNISONE
     Dosage: UNK
     Route: 065
     Dates: start: 2009, end: 2009
  300. PREDNISONE [Suspect]
     Active Substance: PREDNISONE
     Dosage: 50 MILLIGRAM
     Route: 065
     Dates: start: 2017
  301. PREDNISONE [Suspect]
     Active Substance: PREDNISONE
     Dosage: UNK
     Route: 042
     Dates: start: 2017, end: 2017
  302. PREDNISONE [Suspect]
     Active Substance: PREDNISONE
     Dosage: 50 MILLIGRAM
     Route: 065
     Dates: start: 2009, end: 2009
  303. PREDNISONE [Suspect]
     Active Substance: PREDNISONE
     Dosage: UNK
     Route: 065
     Dates: start: 2009, end: 2016
  304. PREDNISONE [Suspect]
     Active Substance: PREDNISONE
     Dosage: UNK
     Route: 065
     Dates: start: 2009, end: 2009
  305. PREDNISONE [Suspect]
     Active Substance: PREDNISONE
     Dosage: UNK
     Route: 065
     Dates: start: 2017
  306. PREDNISONE [Suspect]
     Active Substance: PREDNISONE
     Dosage: 50 MILLIGRAM
     Route: 065
     Dates: start: 2009, end: 2009
  307. PREDNISONE [Suspect]
     Active Substance: PREDNISONE
     Dosage: 50 MILLIGRAM, QD (1 EVERY 1 DAYS)
     Route: 065
  308. PREDNISONE [Suspect]
     Active Substance: PREDNISONE
     Dosage: 40 MILLIGRAM, QD (1 EVERY 1 DAYS
     Route: 065
  309. PREDNISONE [Suspect]
     Active Substance: PREDNISONE
     Dosage: UNK
     Route: 065
  310. INFLIXIMAB [Suspect]
     Active Substance: INFLIXIMAB
     Indication: Colitis ulcerative
     Dosage: UNK, CYCLE
     Route: 042
     Dates: start: 201709
  311. INFLIXIMAB [Suspect]
     Active Substance: INFLIXIMAB
     Indication: Crohn^s disease
     Dosage: UNK (0, 2, 6 WEEKS, THEN EVERY 8 WEEKS)
     Route: 042
  312. INFLIXIMAB [Suspect]
     Active Substance: INFLIXIMAB
     Dosage: UNK
     Route: 042
     Dates: start: 201709
  313. INFLIXIMAB [Suspect]
     Active Substance: INFLIXIMAB
     Dosage: UNK UNK, Q8WEEKS CYCLE
     Route: 042
     Dates: start: 20170101, end: 20170901
  314. INFLIXIMAB [Suspect]
     Active Substance: INFLIXIMAB
     Dosage: UNK
     Route: 042
     Dates: start: 20170101, end: 20170901
  315. INFLIXIMAB [Suspect]
     Active Substance: INFLIXIMAB
     Dosage: UNK, Q6WEEKS
     Route: 042
     Dates: start: 201709
  316. INFLIXIMAB [Suspect]
     Active Substance: INFLIXIMAB
     Dosage: UNK, Q6WEEKS
     Route: 042
     Dates: start: 20171019
  317. INFLIXIMAB [Suspect]
     Active Substance: INFLIXIMAB
     Dosage: UNK, Q2W
     Route: 042
     Dates: start: 20171019
  318. INFLIXIMAB [Suspect]
     Active Substance: INFLIXIMAB
     Dosage: 5 MILLIGRAM/KILOGRAM, Q8WEEKS
     Route: 042
     Dates: start: 20171019
  319. INFLIXIMAB [Suspect]
     Active Substance: INFLIXIMAB
     Dosage: 5 MILLIGRAM/KILOGRAM, Q8WK
     Route: 042
     Dates: start: 20170101, end: 20170901
  320. INFLIXIMAB [Suspect]
     Active Substance: INFLIXIMAB
     Dosage: UNK, Q2W (1 EVERY 2 WEEKS)
     Route: 042
  321. INFLIXIMAB [Suspect]
     Active Substance: INFLIXIMAB
     Dosage: UNK, Q8WEEKS
     Route: 042
     Dates: start: 20171019
  322. INFLIXIMAB [Suspect]
     Active Substance: INFLIXIMAB
     Dosage: 7 MILLIGRAM/KILOGRAM, Q8WEEKS
     Route: 042
     Dates: start: 20171019
  323. INFLIXIMAB [Suspect]
     Active Substance: INFLIXIMAB
     Dosage: UNK
     Route: 042
     Dates: end: 201709
  324. INFLIXIMAB [Suspect]
     Active Substance: INFLIXIMAB
     Dosage: UNK, Q8WEEKS
     Route: 042
     Dates: start: 20170101, end: 20170901
  325. INFLIXIMAB [Suspect]
     Active Substance: INFLIXIMAB
     Dosage: 8 MILLIGRAM/KILOGRAM, Q8WEEKS
     Route: 042
  326. INFLIXIMAB [Suspect]
     Active Substance: INFLIXIMAB
     Dosage: 120 MILLIGRAM (1 EVERY 8 WEEKS)
     Route: 042
  327. INFLIXIMAB [Suspect]
     Active Substance: INFLIXIMAB
     Dosage: 8 DOSAGE FORM (1 EVERY 8 WEEKS)
     Route: 042
  328. HUMIRA [Suspect]
     Active Substance: ADALIMUMAB
     Indication: Deep vein thrombosis
     Dosage: UNK
     Route: 065
  329. HUMIRA [Suspect]
     Active Substance: ADALIMUMAB
     Indication: Crohn^s disease
  330. HUMIRA [Suspect]
     Active Substance: ADALIMUMAB
     Indication: Deep vein thrombosis
     Dosage: 8 DOSAGE FORM
     Route: 048
     Dates: start: 201707
  331. HUMIRA [Suspect]
     Active Substance: ADALIMUMAB
     Indication: Crohn^s disease
     Dosage: UNK
     Route: 065
     Dates: start: 201709, end: 201709
  332. HUMIRA [Suspect]
     Active Substance: ADALIMUMAB
     Dosage: 38 DOSAGE FORM
     Route: 058
  333. CORTISONE ACETATE [Suspect]
     Active Substance: CORTISONE ACETATE
     Indication: Product used for unknown indication
     Dosage: UNK
     Route: 065
  334. PARA-AMINOSALICYLIC ACID [Suspect]
     Active Substance: AMINOSALICYLIC ACID
     Indication: Colitis ulcerative
     Dosage: UNK
     Route: 065
  335. PARA-AMINOSALICYLIC ACID [Suspect]
     Active Substance: AMINOSALICYLIC ACID
     Indication: Deep vein thrombosis
  336. VEDOLIZUMAB [Suspect]
     Active Substance: VEDOLIZUMAB
     Indication: Colitis ulcerative
     Dosage: UNK
     Route: 042
     Dates: start: 2017, end: 2017
  337. VEDOLIZUMAB [Suspect]
     Active Substance: VEDOLIZUMAB
     Indication: Deep vein thrombosis
     Dosage: 1 DOSAGE FORM, QD
     Route: 048
  338. VEDOLIZUMAB [Suspect]
     Active Substance: VEDOLIZUMAB
     Dosage: UNK
     Route: 048
     Dates: start: 2017, end: 2017
  339. VEDOLIZUMAB [Suspect]
     Active Substance: VEDOLIZUMAB
     Dosage: UNK
     Route: 065
     Dates: start: 2017
  340. VEDOLIZUMAB [Suspect]
     Active Substance: VEDOLIZUMAB
     Dosage: 1 DOSAGE FORM, QD
     Route: 048
     Dates: start: 201807
  341. VEDOLIZUMAB [Suspect]
     Active Substance: VEDOLIZUMAB
     Dosage: UNK
     Route: 065
     Dates: end: 2017
  342. VEDOLIZUMAB [Suspect]
     Active Substance: VEDOLIZUMAB
     Dosage: UNK
     Route: 065
     Dates: start: 2009, end: 2019
  343. VEDOLIZUMAB [Suspect]
     Active Substance: VEDOLIZUMAB
     Dosage: 8 DOSAGE FORM, Q8WEEKS
     Route: 065
     Dates: start: 201807
  344. VEDOLIZUMAB [Suspect]
     Active Substance: VEDOLIZUMAB
     Dosage: UNK
     Route: 042
  345. VEDOLIZUMAB [Suspect]
     Active Substance: VEDOLIZUMAB
     Indication: Deep vein thrombosis
     Dosage: UNK
     Route: 042
     Dates: start: 2017
  346. VEDOLIZUMAB [Suspect]
     Active Substance: VEDOLIZUMAB
     Indication: Colitis ulcerative
     Dosage: UNK
     Route: 042
     Dates: start: 2019
  347. VEDOLIZUMAB [Suspect]
     Active Substance: VEDOLIZUMAB
     Dosage: UNK
     Route: 042
     Dates: start: 2017, end: 2017
  348. OXYCODONE HYDROCHLORIDE [Suspect]
     Active Substance: OXYCODONE HYDROCHLORIDE
     Indication: Product used for unknown indication
     Dosage: 5 MILLIGRAM, BID (10 MILLIGRAM DAILY)
     Route: 065
  349. OXYCODONE HYDROCHLORIDE [Suspect]
     Active Substance: OXYCODONE HYDROCHLORIDE
     Dosage: 5 MILLIGRAM
     Route: 065
  350. MESALAMINE [Suspect]
     Active Substance: MESALAMINE
     Indication: Colitis ulcerative
     Dosage: 50 MILLIGRAM (START DATE 2009)
     Route: 065
  351. MESALAMINE [Suspect]
     Active Substance: MESALAMINE
     Dosage: UNK
     Route: 065
     Dates: start: 20170101, end: 20170901
  352. MESALAMINE [Suspect]
     Active Substance: MESALAMINE
     Dosage: UNK
     Route: 065
     Dates: start: 2017, end: 201709
  353. MESALAMINE [Suspect]
     Active Substance: MESALAMINE
     Dosage: UNK
     Route: 065
     Dates: start: 201709, end: 201709
  354. MESALAMINE [Suspect]
     Active Substance: MESALAMINE
     Dosage: 2.4 GRAM, QD, 0.8 G, 3 TABLETS TWO TIMES A DAY (4.8 G DAILY)
     Route: 065
     Dates: start: 20161001
  355. MESALAMINE [Suspect]
     Active Substance: MESALAMINE
     Dosage: 3 DOSAGE FORM, QD
     Route: 065
     Dates: start: 201610
  356. MESALAMINE [Suspect]
     Active Substance: MESALAMINE
     Dosage: UNK
     Route: 065
     Dates: start: 201601, end: 201610
  357. MESALAMINE [Suspect]
     Active Substance: MESALAMINE
     Dosage: UNK
     Route: 048
     Dates: start: 20160101, end: 20161001
  358. MESALAMINE [Suspect]
     Active Substance: MESALAMINE
     Dosage: 50 MILLIGRAM
     Route: 048
     Dates: start: 20170101, end: 20170901
  359. MESALAMINE [Suspect]
     Active Substance: MESALAMINE
     Dosage: 6 DOSAGE FORM, QD (0.8 G, 3 TABLETS TWO TIMES A DAY (4.8 G DAILY))
     Route: 048
     Dates: start: 20161001
  360. MESALAMINE [Suspect]
     Active Substance: MESALAMINE
     Dosage: 4.8 GRAM, QD
     Route: 065
     Dates: start: 20161001
  361. MESALAMINE [Suspect]
     Active Substance: MESALAMINE
     Dosage: 3 DOSAGE FORM, BID
     Route: 065
     Dates: start: 2016
  362. MESALAMINE [Suspect]
     Active Substance: MESALAMINE
     Dosage: 50 MILLIGRAM
     Route: 048
     Dates: start: 20170101, end: 20171001
  363. MESALAMINE [Suspect]
     Active Substance: MESALAMINE
     Dosage: 8 DOSAGE FORM, Q8WK
     Route: 048
     Dates: start: 201707
  364. MESALAMINE [Suspect]
     Active Substance: MESALAMINE
     Dosage: 4.8 GRAM
     Route: 065
     Dates: start: 20170101
  365. MESALAMINE [Suspect]
     Active Substance: MESALAMINE
     Dosage: 50 MILLIGRAM, QD
     Route: 065
     Dates: start: 20160101, end: 20161001
  366. MESALAMINE [Suspect]
     Active Substance: MESALAMINE
     Dosage: 50 MILLIGRAM
     Route: 048
     Dates: start: 20170101, end: 20170901
  367. MESALAMINE [Suspect]
     Active Substance: MESALAMINE
     Dosage: 4.8 MILLIGRAM, QD
     Route: 065
     Dates: start: 20161001
  368. MESALAMINE [Suspect]
     Active Substance: MESALAMINE
     Dosage: UNK
     Route: 065
     Dates: start: 2017
  369. MESALAMINE [Suspect]
     Active Substance: MESALAMINE
     Dosage: 4.8 MILLIGRAM, QD
     Route: 065
     Dates: start: 20170101
  370. MESALAMINE [Suspect]
     Active Substance: MESALAMINE
     Dosage: UNK
     Route: 065
     Dates: start: 201709, end: 201709
  371. MESALAMINE [Suspect]
     Active Substance: MESALAMINE
     Dosage: 4.8 GRAM, QD
     Route: 065
     Dates: start: 20160101, end: 201709
  372. MESALAMINE [Suspect]
     Active Substance: MESALAMINE
     Dosage: 50 MILLIGRAM
     Route: 065
     Dates: start: 20160101, end: 20170901
  373. HYDROCORTISONE SODIUM SUCCINATE [Suspect]
     Active Substance: HYDROCORTISONE SODIUM SUCCINATE
     Indication: Colitis ulcerative
     Dosage: 1 DOSAGE FORM, QD
     Route: 065
  374. SULFASALAZINE [Suspect]
     Active Substance: SULFASALAZINE
     Indication: Colitis ulcerative
     Dosage: UNK
     Route: 065
     Dates: start: 2009, end: 2009
  375. SULFASALAZINE [Suspect]
     Active Substance: SULFASALAZINE
     Indication: Arthritis
     Dosage: 3 MILLIGRAM, QD (1 EVERY 1 DAYS)
     Route: 048
  376. SULFASALAZINE [Suspect]
     Active Substance: SULFASALAZINE
     Dosage: UNK
     Route: 065
     Dates: start: 20091001, end: 20161001
  377. SULFASALAZINE [Suspect]
     Active Substance: SULFASALAZINE
     Dosage: UNK
     Route: 065
     Dates: start: 20090101, end: 20160101
  378. SULFASALAZINE [Suspect]
     Active Substance: SULFASALAZINE
     Dosage: UNK
     Route: 065
     Dates: start: 20160101, end: 20160101
  379. SULFASALAZINE [Suspect]
     Active Substance: SULFASALAZINE
     Dosage: 5 MILLIGRAM, QD
     Route: 048
  380. SULFASALAZINE [Suspect]
     Active Substance: SULFASALAZINE
     Dosage: UNK
     Route: 065
     Dates: start: 201709, end: 201709
  381. SULFASALAZINE [Suspect]
     Active Substance: SULFASALAZINE
     Dosage: UNK
     Route: 065
  382. SULFASALAZINE [Suspect]
     Active Substance: SULFASALAZINE
     Dosage: UNK
     Route: 065
  383. SULFASALAZINE [Suspect]
     Active Substance: SULFASALAZINE
     Dosage: UNK
     Route: 065
  384. SULFASALAZINE [Suspect]
     Active Substance: SULFASALAZINE
     Dosage: UNK
     Route: 065
  385. SULFASALAZINE [Suspect]
     Active Substance: SULFASALAZINE
     Dosage: UNK
     Route: 065
  386. SULFASALAZINE [Suspect]
     Active Substance: SULFASALAZINE
     Dosage: 5 MILLIGRAM, QD (1 EVERY 1 DAYS)
     Route: 048
  387. SULFASALAZINE [Suspect]
     Active Substance: SULFASALAZINE
     Dosage: UNK, QD (1 EVERY1 DAYS)
     Route: 065
  388. SULFASALAZINE [Suspect]
     Active Substance: SULFASALAZINE
     Dosage: UNK
     Route: 065
     Dates: start: 2009, end: 2016
  389. WARFARIN SODIUM [Suspect]
     Active Substance: WARFARIN SODIUM
     Indication: Deep vein thrombosis
     Dosage: 1 DOSAGE FORM, QD
     Route: 048
     Dates: start: 201707
  390. WARFARIN SODIUM [Suspect]
     Active Substance: WARFARIN SODIUM
     Indication: Colitis ulcerative
     Dosage: UNK
     Route: 065
     Dates: start: 201707
  391. WARFARIN SODIUM [Suspect]
     Active Substance: WARFARIN SODIUM
     Indication: Crohn^s disease
     Dosage: 8 DOSAGE FORM, Q8WEEKS
     Route: 048
     Dates: start: 201707
  392. WARFARIN SODIUM [Suspect]
     Active Substance: WARFARIN SODIUM
     Dosage: UNK
     Route: 065
     Dates: start: 2019
  393. WARFARIN SODIUM [Suspect]
     Active Substance: WARFARIN SODIUM
     Dosage: UNK
     Route: 048
     Dates: start: 2009, end: 2009
  394. WARFARIN SODIUM [Suspect]
     Active Substance: WARFARIN SODIUM
     Dosage: UNK
     Route: 065
     Dates: end: 2019
  395. AMINOSALICYLIC ACID [Suspect]
     Active Substance: AMINOSALICYLIC ACID
     Indication: Product used for unknown indication
     Dosage: UNK
     Route: 048
     Dates: start: 2017
  396. REMICADE [Suspect]
     Active Substance: INFLIXIMAB
     Indication: Crohn^s disease
     Dosage: 5 MILLIGRAM/KILOGRAM
     Route: 042
     Dates: start: 20170101, end: 20170901
  397. REMICADE [Suspect]
     Active Substance: INFLIXIMAB
     Indication: Colitis ulcerative
     Dosage: UNK
     Route: 042
     Dates: start: 201709
  398. REMICADE [Suspect]
     Active Substance: INFLIXIMAB
     Dosage: UNK, Q8WEEK
     Route: 042
     Dates: start: 20170101, end: 20170901
  399. CANDESARTAN [Suspect]
     Active Substance: CANDESARTAN
     Indication: Colitis ulcerative
     Dosage: UNK
     Route: 048
     Dates: start: 20230412
  400. VYVANSE [Suspect]
     Active Substance: LISDEXAMFETAMINE DIMESYLATE
     Indication: Attention deficit hyperactivity disorder
     Dosage: UNK
     Route: 065
  401. VYVANSE [Suspect]
     Active Substance: LISDEXAMFETAMINE DIMESYLATE
     Dosage: UNK
     Route: 048
  402. WARFARIN SODIUM [Suspect]
     Active Substance: WARFARIN SODIUM
     Indication: Deep vein thrombosis
     Dosage: 1 DOSAGE FORM, QD (1 EVERY 1 DAYS)
     Route: 048
  403. WARFARIN SODIUM [Suspect]
     Active Substance: WARFARIN SODIUM
     Dosage: 32 DOSAGE FORM, QD (8 DOSAGE FORM 1 EVERY 8 WEEKS)
     Route: 048
  404. WARFARIN SODIUM [Suspect]
     Active Substance: WARFARIN SODIUM
     Dosage: UNK
     Route: 065
  405. CORTIFOAM [Suspect]
     Active Substance: HYDROCORTISONE ACETATE
     Indication: Deep vein thrombosis
     Dosage: 1 DOSAGE FORM, QD (1 EVERY 1 DAYS)
     Route: 048
  406. CORTIFOAM [Suspect]
     Active Substance: HYDROCORTISONE ACETATE
     Indication: Colitis ulcerative
     Dosage: 8 DOSAGE FORM (1 EVERY 8 WEEKS)
     Route: 048
  407. CORTIFOAM [Suspect]
     Active Substance: HYDROCORTISONE ACETATE
     Dosage: 8 DOSAGE FORM (1 EVERY 8 WEEKS)
     Route: 048
  408. CORTIFOAM [Suspect]
     Active Substance: HYDROCORTISONE ACETATE
     Dosage: UNK
     Route: 048
  409. CORTIFOAM [Suspect]
     Active Substance: HYDROCORTISONE ACETATE
     Dosage: 8 DOSAGE FORM
     Route: 048
  410. CORTIFOAM [Suspect]
     Active Substance: HYDROCORTISONE ACETATE
     Dosage: 32 DOSAGE FORM
     Route: 048
     Dates: start: 201707
  411. VITAMIN D3 [Suspect]
     Active Substance: CHOLECALCIFEROL
     Indication: Product used for unknown indication
     Dosage: 100 MILLIGRAM
     Route: 065
  412. VITAMIN D3 [Suspect]
     Active Substance: CHOLECALCIFEROL
     Dosage: 100 MILLIGRAM
     Route: 048
  413. CHOLECALCIFEROL [Suspect]
     Active Substance: CHOLECALCIFEROL
     Indication: Product used for unknown indication
     Dosage: 100 MILLIGRAM
     Route: 065
  414. TOZINAMERAN [Suspect]
     Active Substance: TOZINAMERAN
     Indication: Product used for unknown indication
     Dosage: UNK (DOSE 3)
     Route: 065
     Dates: start: 20220322, end: 20220322
  415. ADALIMUMAB [Suspect]
     Active Substance: ADALIMUMAB
     Indication: Crohn^s disease
     Dosage: 8 DOSAGE FORM
     Route: 065
  416. ADALIMUMAB [Suspect]
     Active Substance: ADALIMUMAB
     Indication: Colitis ulcerative
  417. ADALIMUMAB [Suspect]
     Active Substance: ADALIMUMAB
     Indication: Deep vein thrombosis
  418. DESOXIMETASONE [Suspect]
     Active Substance: DESOXIMETASONE
     Indication: Colitis ulcerative
     Dosage: 1 DOSAGE FORM (1 EVERY 1 DAYS)
     Route: 048
  419. DESOXIMETASONE [Suspect]
     Active Substance: DESOXIMETASONE
     Indication: Crohn^s disease
     Dosage: 4 DOSAGE FORM
     Route: 048
  420. DESOXIMETASONE [Suspect]
     Active Substance: DESOXIMETASONE
     Dosage: 3 DOSAGE FORM, BID (2 EVERY 1 DAYS)
     Route: 048
  421. DESOXIMETASONE [Suspect]
     Active Substance: DESOXIMETASONE
     Dosage: 8 DOSAGE FORM (1 EVERY 8 WEEKS)
     Route: 048
  422. DESOXIMETASONE [Suspect]
     Active Substance: DESOXIMETASONE
     Dosage: 4 DOSAGE FORM
     Route: 065
  423. DESOXIMETASONE [Suspect]
     Active Substance: DESOXIMETASONE
     Dosage: UNK
     Route: 048
  424. DESOXIMETASONE [Suspect]
     Active Substance: DESOXIMETASONE
     Dosage: 1 DOSAGE FORM, QD (1 EVERY 1 DAYS)
     Route: 065
  425. DESOXIMETASONE [Suspect]
     Active Substance: DESOXIMETASONE
     Dosage: 8 DOSAGE FORM, QD
     Route: 065
  426. DESOXIMETASONE [Suspect]
     Active Substance: DESOXIMETASONE
     Dosage: 3 DOSAGE FORM, BID (2 EVERY 1 DAYS)
     Route: 065
  427. COMIRNATY (TOZINAMERAN) [Suspect]
     Active Substance: TOZINAMERAN
     Indication: Product used for unknown indication
     Dosage: UNK
     Route: 065
  428. COMIRNATY (TOZINAMERAN) [Suspect]
     Active Substance: TOZINAMERAN
     Dosage: UNK
     Route: 048
  429. DAPAGLIFLOZIN [Suspect]
     Active Substance: DAPAGLIFLOZIN
     Indication: Ill-defined disorder
     Dosage: UNK
     Route: 065
  430. DAPAGLIFLOZIN [Suspect]
     Active Substance: DAPAGLIFLOZIN
     Dosage: UNK
     Route: 048
  431. AZD-1222 [Suspect]
     Active Substance: AZD-1222
     Indication: COVID-19 immunisation
     Dosage: 1 MILLIGRAM
     Route: 065
     Dates: start: 20210423, end: 20210423
  432. AZD-1222 [Suspect]
     Active Substance: AZD-1222
     Dosage: UNK
     Route: 065
     Dates: start: 2021, end: 2021
  433. AZD-1222 [Suspect]
     Active Substance: AZD-1222
     Dosage: UNK
     Route: 065
     Dates: start: 20210416, end: 20210416
  434. AZD-1222 [Suspect]
     Active Substance: AZD-1222
     Dosage: UNK
     Route: 065
     Dates: start: 20210508, end: 20210508
  435. AZD-1222 [Suspect]
     Active Substance: AZD-1222
     Dosage: UNK
     Route: 065
     Dates: start: 20210713, end: 20210713
  436. AZD-1222 [Suspect]
     Active Substance: AZD-1222
     Dosage: UNK
     Route: 065
     Dates: start: 20210318, end: 20210318
  437. AZD-1222 [Suspect]
     Active Substance: AZD-1222
     Dosage: UNK
     Route: 065
     Dates: start: 20210130, end: 20210130
  438. AZD-1222 [Suspect]
     Active Substance: AZD-1222
     Dosage: UNK
     Route: 065
     Dates: start: 20210319, end: 20210319
  439. AZD-1222 [Suspect]
     Active Substance: AZD-1222
     Dosage: 0.5 MILLILITER
     Route: 065
     Dates: start: 20210204, end: 20210204
  440. AZD-1222 [Suspect]
     Active Substance: AZD-1222
     Dosage: UNK
     Route: 065
     Dates: start: 20210215, end: 20210215
  441. AZD-1222 [Suspect]
     Active Substance: AZD-1222
     Dosage: UNK
     Route: 065
     Dates: start: 20210521, end: 20210521
  442. AZD-1222 [Suspect]
     Active Substance: AZD-1222
     Dosage: 1 MILLILITER
     Route: 065
  443. AZD-1222 [Suspect]
     Active Substance: AZD-1222
     Dosage: UNK
     Route: 065
  444. AZD-1222 [Suspect]
     Active Substance: AZD-1222
     Dosage: UNK
     Route: 065
     Dates: start: 20210423
  445. AZD-1222 [Suspect]
     Active Substance: AZD-1222
     Dosage: UNK
     Route: 065
     Dates: start: 2019
  446. MEBEVERINE HYDROCHLORIDE [Suspect]
     Active Substance: MEBEVERINE HYDROCHLORIDE
     Indication: Product used for unknown indication
     Dosage: 20 MILLIGRAM
     Route: 065
  447. MEBEVERINE HYDROCHLORIDE [Suspect]
     Active Substance: MEBEVERINE HYDROCHLORIDE
     Dosage: UNK
     Route: 065
  448. MEBEVERINE HYDROCHLORIDE [Suspect]
     Active Substance: MEBEVERINE HYDROCHLORIDE
     Dosage: 200 MILLIGRAM
     Route: 065
  449. OMEPRAZOLE [Suspect]
     Active Substance: OMEPRAZOLE
     Indication: Gastritis
     Dosage: 20 MILLIGRAM
     Route: 065
  450. ESOMEPRAZOLE [Suspect]
     Active Substance: ESOMEPRAZOLE
     Indication: Gastritis
     Dosage: UNK
     Route: 065
  451. LISDEXAMFETAMINE DIMESYLATE [Suspect]
     Active Substance: LISDEXAMFETAMINE DIMESYLATE
     Indication: Product used for unknown indication
     Dosage: UNK
     Route: 065
  452. FUROSEMIDE [Suspect]
     Active Substance: FUROSEMIDE
     Indication: Product used for unknown indication
     Dosage: 20 MILLIGRAM
     Route: 065
  453. WARFARIN SODIUM [Suspect]
     Active Substance: WARFARIN SODIUM
     Indication: Deep vein thrombosis
     Dosage: UNK
     Route: 065
     Dates: start: 2009
  454. HYDROCORTISONE ACETATE [Suspect]
     Active Substance: HYDROCORTISONE ACETATE
     Indication: Product used for unknown indication
     Dosage: 8 DOSAGE FORM, Q8WK (1 EVERY 8 WEEKS)
     Route: 048
     Dates: start: 200707
  455. PREDNISONE [Suspect]
     Active Substance: PREDNISONE
     Indication: Colitis ulcerative
     Dosage: UNK
     Route: 065
  456. CHOLECALCIFEROL [Suspect]
     Active Substance: CHOLECALCIFEROL
     Indication: Product used for unknown indication
     Dosage: 100 MILLIGRAM
     Route: 065
  457. PARA-AMINOSALICYLIC ACID [Suspect]
     Active Substance: AMINOSALICYLIC ACID
     Indication: Deep vein thrombosis
     Dosage: UNK
     Route: 048
  458. PARA-AMINOSALICYLIC ACID [Suspect]
     Active Substance: AMINOSALICYLIC ACID
     Indication: Colitis ulcerative
  459. OMEPRAZOLE [Suspect]
     Active Substance: OMEPRAZOLE
     Indication: Gastritis
     Dosage: 20 MILLIGRAM
     Route: 065
  460. ADALIMUMAB [Suspect]
     Active Substance: ADALIMUMAB
     Indication: Crohn^s disease
     Dosage: 8 DOSAGE FORM
     Route: 048
     Dates: start: 201707
  461. ADALIMUMAB [Suspect]
     Active Substance: ADALIMUMAB
     Indication: Colitis ulcerative
     Dosage: UNK
     Route: 048
  462. ADALIMUMAB [Suspect]
     Active Substance: ADALIMUMAB
     Indication: Deep vein thrombosis
     Dosage: 8 DOSAGE FORM
     Route: 048
     Dates: start: 201707
  463. INFLIXIMAB [Suspect]
     Active Substance: INFLIXIMAB
     Indication: Colitis ulcerative
     Dosage: UNK (1 EVERY 6 WEEKS)
     Route: 065
  464. INFLIXIMAB [Suspect]
     Active Substance: INFLIXIMAB
     Indication: Crohn^s disease
     Dosage: 7 MILLIGRAM PER KILOGRAM, 1 EVERY 8 WEEKS
     Route: 042
  465. INFLIXIMAB [Suspect]
     Active Substance: INFLIXIMAB
     Dosage: 5 MILLIGRAM PER KILOGRAM, 1 EVERY 8 WEEKS
     Route: 042
  466. INFLIXIMAB [Suspect]
     Active Substance: INFLIXIMAB
     Dosage: UNK (1 EVERY 6 WEEKS)
     Route: 042
  467. INFLIXIMAB [Suspect]
     Active Substance: INFLIXIMAB
     Dosage: UNK, Q2W (1 EVERY 2 WEEKS)
     Route: 065
  468. INFLIXIMAB [Suspect]
     Active Substance: INFLIXIMAB
     Dosage: 7 MILLIGRAM PER KILOGRAM, 1 EVERY 8 WEEKS
     Route: 042
  469. INFLIXIMAB [Suspect]
     Active Substance: INFLIXIMAB
     Dosage: UNK
     Route: 042
  470. INFLIXIMAB [Suspect]
     Active Substance: INFLIXIMAB
     Dosage: UNK (1 EVERY 8 WEEKS)
     Route: 042
  471. INFLIXIMAB [Suspect]
     Active Substance: INFLIXIMAB
     Dosage: UNK, Q2W (1 EVERY 2 WEEKS)
     Route: 042
  472. INFLIXIMAB [Suspect]
     Active Substance: INFLIXIMAB
     Dosage: UNK (1 EVERY 6 WEEKS)
     Route: 065
  473. INFLIXIMAB [Suspect]
     Active Substance: INFLIXIMAB
     Dosage: UNK
     Route: 048
  474. INFLIXIMAB [Suspect]
     Active Substance: INFLIXIMAB
     Dosage: UNK
     Route: 042
  475. INFLIXIMAB [Suspect]
     Active Substance: INFLIXIMAB
     Dosage: UNK
     Route: 065
  476. INFLIXIMAB [Suspect]
     Active Substance: INFLIXIMAB
     Dosage: UNK
     Route: 048
  477. INFLIXIMAB [Suspect]
     Active Substance: INFLIXIMAB
     Dosage: 5 MILLIGRAM PER KILOGRAM, 1 EVERY 8 WEEKS
     Route: 042
  478. INFLIXIMAB [Suspect]
     Active Substance: INFLIXIMAB
     Dosage: 7 MILLIGRAM PER KILOGRAM
     Route: 065
  479. INFLIXIMAB [Suspect]
     Active Substance: INFLIXIMAB
     Dosage: 5 MILLIGRAM PER KILOGRAM
     Route: 042
  480. INFLIXIMAB [Suspect]
     Active Substance: INFLIXIMAB
     Dosage: 8 MILLIGRAM PER KILOGRAM, 1 EVERY 8 WEEKS
     Route: 042
  481. CORTISONE [Suspect]
     Active Substance: CORTISONE
     Indication: Crohn^s disease
     Dosage: 8 DOSAGE FORM, QD (8 DOSAGE FORM, 1 EVERY 1 DAYS)
     Route: 048
  482. CORTISONE [Suspect]
     Active Substance: CORTISONE
     Indication: Colitis ulcerative
     Dosage: 8 DOSAGE FORM (8 DOSAGE 1 EVERY 8 WEEKS)
     Route: 048
  483. CORTISONE [Suspect]
     Active Substance: CORTISONE
     Dosage: UNK (1 EVERY 6 WEEKS)
     Route: 048
  484. CORTISONE [Suspect]
     Active Substance: CORTISONE
     Dosage: 1 DOSAGE FORM, QD (1 DOSAGE 1 EVERY 1 DAY)
     Route: 048
  485. CORTISONE [Suspect]
     Active Substance: CORTISONE
     Dosage: UNK
     Route: 048
  486. CORTISONE [Suspect]
     Active Substance: CORTISONE
     Dosage: UNK, QD (1 EVERY1 DAYS)
     Route: 065
  487. CORTISONE [Suspect]
     Active Substance: CORTISONE
     Dosage: UNK (1 EVERY 8 WEEKS)
     Route: 048
  488. CORTISONE [Suspect]
     Active Substance: CORTISONE
     Dosage: UNK
     Route: 042
  489. MESALAMINE [Suspect]
     Active Substance: MESALAMINE
     Indication: Colitis ulcerative
     Dosage: 6 DOSAGE FORM, QD
     Route: 065
     Dates: start: 20161001
  490. MESALAMINE [Suspect]
     Active Substance: MESALAMINE
     Dosage: 6 DOSAGE FORM, QD (3 DOSAGE FORM, BID)
     Route: 065
     Dates: start: 201610
  491. LEVOTHYROXINE SODIUM [Suspect]
     Active Substance: LEVOTHYROXINE SODIUM
     Indication: Product used for unknown indication
     Dosage: 100 MILLIGRAM
     Route: 065
  492. ACETAMINOPHEN [Suspect]
     Active Substance: ACETAMINOPHEN
     Indication: Ill-defined disorder
     Dosage: 2000 MILLIGRAM, QD (500 MILLIRAM, 4 DOSE PER 1 DAY)
     Route: 065
  493. ACETAMINOPHEN [Suspect]
     Active Substance: ACETAMINOPHEN
     Dosage: 500 MILLIGRAM
     Route: 065
  494. MESALAMINE [Suspect]
     Active Substance: MESALAMINE
     Indication: Colitis ulcerative
     Dosage: UNK
     Route: 048
     Dates: start: 20160101, end: 20160101
  495. MESALAMINE [Suspect]
     Active Substance: MESALAMINE
     Dosage: UNK
     Route: 048
     Dates: start: 20160101, end: 201610
  496. MESALAMINE [Suspect]
     Active Substance: MESALAMINE
     Dosage: UNK
     Route: 065
     Dates: start: 201601, end: 201610
  497. MESALAMINE [Suspect]
     Active Substance: MESALAMINE
     Dosage: 2.4 GRAM
     Route: 065
  498. MESALAMINE [Suspect]
     Active Substance: MESALAMINE
     Dosage: 2.4 GRAM
     Route: 065
     Dates: start: 201601
  499. MESALAMINE [Suspect]
     Active Substance: MESALAMINE
     Dosage: 50 MILLIGRAM, QD (1 DOSE PER 1 DAY)
     Route: 065
  500. MESALAMINE [Suspect]
     Active Substance: MESALAMINE
     Dosage: 6 DOSAGE FORM, QD (3 DOSAGE FORM, 2 DOSE PER 1 DAY)
     Route: 065
  501. MESALAMINE [Suspect]
     Active Substance: MESALAMINE
     Dosage: 24 DOSAGE FORM, QD (1 DOSE PER 1 DAY)
     Route: 065
  502. MESALAMINE [Suspect]
     Active Substance: MESALAMINE
     Dosage: UNK
     Route: 065
  503. MESALAMINE [Suspect]
     Active Substance: MESALAMINE
     Dosage: 40 MILLIGRAM, QD ( 1 DOSE PER 1 DAY)
     Route: 065
  504. MESALAMINE [Suspect]
     Active Substance: MESALAMINE
     Dosage: 12 DOSAGE FORM, QD (1 DOSE PER 1 DAY)
     Route: 065
  505. MESALAMINE [Suspect]
     Active Substance: MESALAMINE
     Dosage: 50 MILLIGRAM
     Route: 065
  506. MESALAMINE [Suspect]
     Active Substance: MESALAMINE
     Dosage: 4.8 GRAM, QD (1 DOSE PER 1 DAY)
     Route: 065
  507. MESALAMINE [Suspect]
     Active Substance: MESALAMINE
     Dosage: 60 DOSAGE FORM, QD (30 DOSAGE FORM, 2 DOSE PER 1 DAY)
     Route: 065
  508. MESALAMINE [Suspect]
     Active Substance: MESALAMINE
     Dosage: 3 GRAM, QD (1 DOSE PER 1 DAY)
     Route: 065
  509. MESALAMINE [Suspect]
     Active Substance: MESALAMINE
     Dosage: 12 DOSAGE FORM, QD (6 DOSAGE FORM, 2 DOSE PER 1 DAY)
     Route: 065
  510. MESALAMINE [Suspect]
     Active Substance: MESALAMINE
     Dosage: 2.4 GRAM, MONTHLY
     Route: 065
  511. MESALAMINE [Suspect]
     Active Substance: MESALAMINE
     Dosage: 50 MILLIGRAM
     Route: 048
  512. MESALAMINE [Suspect]
     Active Substance: MESALAMINE
     Dosage: UNK
     Route: 048
  513. WARFARIN [Suspect]
     Active Substance: WARFARIN
     Indication: Product used for unknown indication
     Dosage: 8 DOSAGE FORM
     Route: 048
  514. XELJANZ [Suspect]
     Active Substance: TOFACITINIB CITRATE
     Indication: Product used for unknown indication
     Dosage: 5 DOSAGE FORM
     Route: 048
  515. INFLECTRA [Suspect]
     Active Substance: INFLIXIMAB-DYYB
     Indication: Crohn^s disease
     Dosage: UNK
     Route: 065
  516. INFLECTRA [Suspect]
     Active Substance: INFLIXIMAB-DYYB
     Indication: Colitis ulcerative
     Dosage: UNK
     Route: 048
  517. INFLECTRA [Suspect]
     Active Substance: INFLIXIMAB-DYYB
     Dosage: UNK
     Route: 042
  518. INFLECTRA [Suspect]
     Active Substance: INFLIXIMAB-DYYB
     Dosage: UNK
     Route: 065
  519. INFLECTRA [Suspect]
     Active Substance: INFLIXIMAB-DYYB
     Dosage: UNK
     Route: 048
  520. INFLECTRA [Suspect]
     Active Substance: INFLIXIMAB-DYYB
     Dosage: UNK (5 MILLIGRAM PER KILOGRAM)
     Route: 042
  521. INFLECTRA [Suspect]
     Active Substance: INFLIXIMAB-DYYB
     Dosage: UNK (1 DOSE PER 6 WEEKS)
     Route: 065
  522. INFLECTRA [Suspect]
     Active Substance: INFLIXIMAB-DYYB
     Dosage: UNK (1 DOSE PER 8 WEEKS)
     Route: 065
  523. INFLECTRA [Suspect]
     Active Substance: INFLIXIMAB-DYYB
     Dosage: UNK (5 MILLIGRAM PER KILOGRAM, 1 DOSE PER 8 WEEKS)
     Route: 065
  524. RIVAROXABAN [Concomitant]
     Active Substance: RIVAROXABAN
     Dosage: UNK
     Route: 065
  525. Cortiment [Concomitant]
     Indication: Colitis ulcerative
     Dosage: 8 DOSAGE FORM (1 EVERY 8 WEEKS)
     Route: 048
     Dates: start: 200707
  526. METHOTREXATE [Concomitant]
     Active Substance: METHOTREXATE
     Indication: Colitis ulcerative
     Dosage: UNK
     Route: 065
     Dates: start: 20090101, end: 20160101
  527. METHOTREXATE [Concomitant]
     Active Substance: METHOTREXATE
     Dosage: UNK
     Route: 065
     Dates: start: 20090101, end: 20160101
  528. METHOTREXATE [Concomitant]
     Active Substance: METHOTREXATE
     Dosage: UNK
     Route: 065
     Dates: start: 201709, end: 201709
  529. METHOTREXATE [Concomitant]
     Active Substance: METHOTREXATE
     Dosage: UNK
     Route: 065
     Dates: start: 20160101
  530. METHOTREXATE [Concomitant]
     Active Substance: METHOTREXATE
     Dosage: UNK
     Route: 065
     Dates: start: 2009, end: 2016
  531. METHOTREXATE [Concomitant]
     Active Substance: METHOTREXATE
     Dosage: UNK
     Route: 065
  532. METHOTREXATE [Concomitant]
     Active Substance: METHOTREXATE
     Dosage: UNK
     Route: 065
  533. METHOTREXATE [Concomitant]
     Active Substance: METHOTREXATE
     Dosage: UNK
     Route: 065
     Dates: start: 201709, end: 201709
  534. METHOTREXATE [Concomitant]
     Active Substance: METHOTREXATE
     Dosage: UNK
     Route: 065
  535. HUMIRA [Concomitant]
     Active Substance: ADALIMUMAB
     Indication: Crohn^s disease
     Dosage: UNK
     Route: 065
  536. HUMIRA [Concomitant]
     Active Substance: ADALIMUMAB
     Indication: Deep vein thrombosis
     Dosage: 8 DOSAGE FORM
     Route: 065
  537. HUMIRA [Concomitant]
     Active Substance: ADALIMUMAB
     Indication: Colitis ulcerative
     Dosage: 8 DOSAGE FORM
     Route: 048
     Dates: start: 201707
  538. HUMIRA [Concomitant]
     Active Substance: ADALIMUMAB
     Dosage: UNK
     Route: 065
     Dates: start: 201709, end: 201709
  539. HUMIRA [Concomitant]
     Active Substance: ADALIMUMAB
     Dosage: UNK (1 EVERY 8 WEEK)
     Route: 065
  540. PREDNISONE [Concomitant]
     Active Substance: PREDNISONE
     Indication: Colitis ulcerative
     Dosage: TAPERED DOSE IN 2009 (EXACT DOSE UNKNOWN)
     Route: 065
  541. PREDNISONE [Concomitant]
     Active Substance: PREDNISONE
     Dosage: 40 MILLIGRAM, QD
     Route: 048
  542. XELJANZ [Concomitant]
     Active Substance: TOFACITINIB CITRATE
     Indication: Colitis ulcerative
     Dosage: 10 MILLIGRAM, QD, (5MG BID)
     Route: 048
  543. XELJANZ [Concomitant]
     Active Substance: TOFACITINIB CITRATE
     Dosage: 5 MILLIGRAM, BID
     Route: 048
  544. XELJANZ [Concomitant]
     Active Substance: TOFACITINIB CITRATE
     Dosage: 10 MILLIGRAM, QD, (5MG BID)
     Route: 048
  545. XELJANZ [Concomitant]
     Active Substance: TOFACITINIB CITRATE
     Dosage: 10 MILLIGRAM
     Route: 048
  546. TOFACITINIB CITRATE [Concomitant]
     Active Substance: TOFACITINIB CITRATE
     Indication: Ill-defined disorder
     Dosage: UNK
     Route: 065
  547. HYDROCORTISONE [Concomitant]
     Active Substance: HYDROCORTISONE
     Indication: Colitis ulcerative
     Dosage: 1 DOSAGE FORM, QD
     Route: 048
  548. MESALAMINE [Concomitant]
     Active Substance: MESALAMINE
     Indication: Colitis ulcerative
     Dosage: UNK
     Route: 065
  549. ALBENDAZOLE [Concomitant]
     Active Substance: ALBENDAZOLE
     Indication: Crohn^s disease
     Dosage: 8 DOSAGE FORM
     Route: 048
  550. ALBENDAZOLE [Concomitant]
     Active Substance: ALBENDAZOLE
     Indication: Colitis ulcerative
     Dosage: 8 DOSAGE FORM
     Route: 048
     Dates: start: 20090101, end: 20160101
  551. ALBENDAZOLE [Concomitant]
     Active Substance: ALBENDAZOLE
     Indication: Deep vein thrombosis
     Dosage: UNK
     Route: 065
  552. POLYETHYLENE GLYCOL 3350\POTASSIUM CHLORIDE\SODIUM BICARBONATE\SODIUM [Concomitant]
     Active Substance: POLYETHYLENE GLYCOL 3350\POTASSIUM CHLORIDE\SODIUM BICARBONATE\SODIUM CHLORIDE
     Dosage: UNK
     Route: 065
  553. Zerobase [Concomitant]
     Dosage: UNK
     Route: 065
  554. BETNOVATE [Concomitant]
     Active Substance: BETAMETHASONE
     Dosage: UNK
     Route: 065
  555. LYRICA [Concomitant]
     Active Substance: PREGABALIN
     Dosage: UNK
     Route: 065
  556. GAVISCON [Concomitant]
     Active Substance: ALUMINUM HYDROXIDE\MAGNESIUM CARBONATE
     Dosage: UNK
     Route: 065
  557. Rennie [Concomitant]
     Dosage: UNK
     Route: 065
  558. CALCIUM CARBONATE\CHOLECALCIFEROL [Concomitant]
     Active Substance: CALCIUM CARBONATE\CHOLECALCIFEROL
     Dosage: UNK
     Route: 065
  559. LATANOPROST [Concomitant]
     Active Substance: LATANOPROST
     Dosage: UNK
     Route: 065
  560. MOVICOL [Concomitant]
     Active Substance: POLYETHYLENE GLYCOL 3350\POTASSIUM CHLORIDE\SODIUM BICARBONATE\SODIUM CHLORIDE
     Dosage: UNK
     Route: 065
  561. ATORVASTATIN [Concomitant]
     Active Substance: ATORVASTATIN
     Dosage: UNK
     Route: 065
  562. ROSUVASTATIN [Concomitant]
     Active Substance: ROSUVASTATIN
     Dosage: UNK
     Route: 065
  563. AMLODIPINE [Concomitant]
     Active Substance: AMLODIPINE BESYLATE
     Dosage: UNK
     Route: 065
  564. EMPAGLIFLOZIN [Concomitant]
     Active Substance: EMPAGLIFLOZIN
     Dosage: UNK
     Route: 065
  565. LATANOPROST [Concomitant]
     Active Substance: LATANOPROST
     Dosage: UNK
     Route: 065
  566. LANSOPRAZOLE [Concomitant]
     Active Substance: LANSOPRAZOLE
     Dosage: UNK
     Route: 065
  567. BISOPROLOL [Concomitant]
     Active Substance: BISOPROLOL
     Dosage: UNK
     Route: 065
  568. DORZOLAMIDE HYDROCHLORIDE [Concomitant]
     Active Substance: DORZOLAMIDE HYDROCHLORIDE
     Dosage: UNK
     Route: 065
  569. ACETAMINOPHEN [Concomitant]
     Active Substance: ACETAMINOPHEN
     Dosage: UNK
     Route: 065
  570. OMEPRAZOLE [Concomitant]
     Active Substance: OMEPRAZOLE
     Dosage: UNK
     Route: 065
  571. RAMIPRIL [Concomitant]
     Active Substance: RAMIPRIL
     Indication: Ill-defined disorder
     Dosage: UNK
     Route: 065
  572. TETRAHYDROZOLINE HYDROCHLORIDE [Concomitant]
     Active Substance: TETRAHYDROZOLINE HYDROCHLORIDE
     Dosage: UNK
     Route: 065
  573. TAMSULOSIN HYDROCHLORIDE [Concomitant]
     Active Substance: TAMSULOSIN HYDROCHLORIDE
     Indication: Ill-defined disorder
     Dosage: UNK
     Route: 065
  574. PRAVASTATIN [Concomitant]
     Active Substance: PRAVASTATIN
     Dosage: UNK
     Route: 065
  575. DAPAGLIFLOZIN [Concomitant]
     Active Substance: DAPAGLIFLOZIN
     Dosage: UNK
     Route: 065
  576. NITROFURANTOIN [Concomitant]
     Active Substance: NITROFURANTOIN
     Dosage: UNK
     Route: 065
  577. FOLIC ACID [Concomitant]
     Active Substance: FOLIC ACID
     Dosage: UNK
     Route: 065
  578. SULFASALAZINE [Concomitant]
     Active Substance: SULFASALAZINE
     Indication: Colitis ulcerative
     Dosage: UNK
     Route: 065
     Dates: start: 2009, end: 2016
  579. SULFASALAZINE [Concomitant]
     Active Substance: SULFASALAZINE
     Indication: Arthritis
     Dosage: UNK
     Route: 065
     Dates: start: 20160101, end: 20160101
  580. SULFASALAZINE [Concomitant]
     Active Substance: SULFASALAZINE
     Indication: Colitis ulcerative
     Dosage: UNK
     Route: 065
     Dates: start: 20090101, end: 20160101
  581. SULFASALAZINE [Concomitant]
     Active Substance: SULFASALAZINE
     Indication: Product used for unknown indication
     Dosage: UNK
     Route: 065
     Dates: start: 201709, end: 201709
  582. SULFASALAZINE [Concomitant]
     Active Substance: SULFASALAZINE
     Dosage: UNK
     Route: 065
     Dates: start: 20091001, end: 20161001
  583. SULFASALAZINE [Concomitant]
     Active Substance: SULFASALAZINE
     Dosage: UNK
     Route: 065
  584. SULFASALAZINE [Concomitant]
     Active Substance: SULFASALAZINE
     Dosage: 5 MILLIGRAM
     Route: 065
  585. FESOTERODINE FUMARATE [Concomitant]
     Active Substance: FESOTERODINE FUMARATE
     Dosage: UNK
     Route: 065
  586. CLOBETASONE BUTYRATE [Concomitant]
     Active Substance: CLOBETASONE BUTYRATE
     Dosage: UNK
     Route: 065
  587. CITALOPRAM [Concomitant]
     Active Substance: CITALOPRAM
     Dosage: UNK
     Route: 065
  588. ACETAMINOPHEN [Concomitant]
     Active Substance: ACETAMINOPHEN
     Indication: Ill-defined disorder
     Dosage: UNK
     Route: 065
  589. SULFASALAZINE [Concomitant]
     Active Substance: SULFASALAZINE
     Indication: Colitis ulcerative
     Dosage: 3 MILLIGRAM, QD
     Route: 048
  590. SULFASALAZINE [Concomitant]
     Active Substance: SULFASALAZINE
     Dosage: 5 MILLIGRAM, QD
     Route: 048
  591. SULFASALAZINE [Concomitant]
     Active Substance: SULFASALAZINE
     Dosage: UNK
     Route: 065
  592. AMLODIPINE BESYLATE [Concomitant]
     Active Substance: AMLODIPINE BESYLATE
     Dosage: UNK
     Route: 065
  593. POLYETHYLENE GLYCOL 3350\POTASSIUM CHLORIDE\SODIUM BICARBONATE\SODIUM [Concomitant]
     Active Substance: POLYETHYLENE GLYCOL 3350\POTASSIUM CHLORIDE\SODIUM BICARBONATE\SODIUM CHLORIDE
     Dosage: UNK
     Route: 065
  594. ATORVASTATIN CALCIUM [Concomitant]
     Active Substance: ATORVASTATIN CALCIUM
     Dosage: UNK
     Route: 065
  595. ASPIRIN [Concomitant]
     Active Substance: ASPIRIN
     Dosage: UNK
     Route: 065
  596. CALCIUM CARBONATE;SODIUM ALGINATE;SODIUM BICARBONATE [Concomitant]
     Dosage: UNK
     Route: 065
  597. MINERAL OIL [Concomitant]
     Active Substance: MINERAL OIL
     Indication: Ill-defined disorder
     Dosage: UNK
     Route: 065
  598. NAPHAZOLINE HYDROCHLORIDE [Concomitant]
     Active Substance: NAPHAZOLINE HYDROCHLORIDE
     Indication: Ill-defined disorder
     Dosage: UNK
     Route: 065
  599. Alginic acid;Aluminium hydroxide gel, dried [Concomitant]
     Indication: Ill-defined disorder
     Dosage: UNK
     Route: 065
  600. Alginic acid;Aluminium hydroxide gel, dried [Concomitant]
     Dosage: UNK
     Route: 065
  601. HUMIRA [Concomitant]
     Active Substance: ADALIMUMAB
     Indication: Crohn^s disease
     Dosage: UNK
     Route: 065
  602. HUMIRA [Concomitant]
     Active Substance: ADALIMUMAB
     Indication: Deep vein thrombosis
     Dosage: 8 DOSAGE FORM
     Route: 048
  603. HUMIRA [Concomitant]
     Active Substance: ADALIMUMAB
     Indication: Colitis ulcerative
  604. AMLODIPINE BESYLATE [Concomitant]
     Active Substance: AMLODIPINE BESYLATE
     Dosage: UNK
     Route: 065
  605. Rennie [Concomitant]
     Dosage: UNK
     Route: 065
  606. ALUMINUM HYDROXIDE GEL [Concomitant]
     Active Substance: ALGELDRATE
     Dosage: UNK
     Route: 065
  607. SODIUM ALGINATE [Concomitant]
     Active Substance: SODIUM ALGINATE
     Dosage: UNK
     Route: 065
  608. CALCIUM CARBONATE\CHOLECALCIFEROL [Concomitant]
     Active Substance: CALCIUM CARBONATE\CHOLECALCIFEROL
     Dosage: UNK
     Route: 065
  609. Aluminium hydroxide;Calcium carbonate;Sodium alginate;Sodium bicarbona [Concomitant]
     Dosage: UNK
     Route: 065
  610. PARAFFIN [Concomitant]
     Active Substance: PARAFFIN
     Dosage: UNK
     Route: 065
  611. TETRAHYDROZOLINE HYDROCHLORIDE [Concomitant]
     Active Substance: TETRAHYDROZOLINE HYDROCHLORIDE
     Indication: Crohn^s disease
     Dosage: UNK
     Route: 065
  612. TETRAHYDROZOLINE HYDROCHLORIDE [Concomitant]
     Active Substance: TETRAHYDROZOLINE HYDROCHLORIDE
     Indication: Colitis ulcerative

REACTIONS (53)
  - Loss of personal independence in daily activities [Not Recovered/Not Resolved]
  - Deep vein thrombosis [Not Recovered/Not Resolved]
  - Bronchiectasis [Not Recovered/Not Resolved]
  - Weight decreased [Not Recovered/Not Resolved]
  - Impaired quality of life [Not Recovered/Not Resolved]
  - Colitis ulcerative [Not Recovered/Not Resolved]
  - Condition aggravated [Not Recovered/Not Resolved]
  - Rectal haemorrhage [Unknown]
  - Haematochezia [Not Recovered/Not Resolved]
  - Impaired work ability [Not Recovered/Not Resolved]
  - Rash [Not Recovered/Not Resolved]
  - Frequent bowel movements [Not Recovered/Not Resolved]
  - Steroid dependence [Not Recovered/Not Resolved]
  - Stress [Not Recovered/Not Resolved]
  - Abdominal discomfort [Not Recovered/Not Resolved]
  - Accidental overdose [Not Recovered/Not Resolved]
  - Arthritis [Not Recovered/Not Resolved]
  - Burns second degree [Not Recovered/Not Resolved]
  - Cardiac murmur [Not Recovered/Not Resolved]
  - Catarrh [Not Recovered/Not Resolved]
  - Cerebrovascular accident [Not Recovered/Not Resolved]
  - Confusional state [Not Recovered/Not Resolved]
  - COVID-19 [Not Recovered/Not Resolved]
  - Depression [Not Recovered/Not Resolved]
  - Dysgeusia [Not Recovered/Not Resolved]
  - Eczema [Not Recovered/Not Resolved]
  - Fatigue [Not Recovered/Not Resolved]
  - Gingival pain [Not Recovered/Not Resolved]
  - Headache [Not Recovered/Not Resolved]
  - Hypopnoea [Not Recovered/Not Resolved]
  - Migraine [Not Recovered/Not Resolved]
  - Nightmare [Not Recovered/Not Resolved]
  - Pain [Not Recovered/Not Resolved]
  - Pain in extremity [Not Recovered/Not Resolved]
  - Palpitations [Not Recovered/Not Resolved]
  - Parosmia [Not Recovered/Not Resolved]
  - Pulmonary embolism [Not Recovered/Not Resolved]
  - Pyrexia [Not Recovered/Not Resolved]
  - Rhinitis [Not Recovered/Not Resolved]
  - Somnolence [Not Recovered/Not Resolved]
  - Swollen tongue [Not Recovered/Not Resolved]
  - Systemic lupus erythematosus [Not Recovered/Not Resolved]
  - Tinnitus [Not Recovered/Not Resolved]
  - Tubulointerstitial nephritis [Not Recovered/Not Resolved]
  - Vertigo [Not Recovered/Not Resolved]
  - Adverse drug reaction [Not Recovered/Not Resolved]
  - Alcohol poisoning [Not Recovered/Not Resolved]
  - Product use in unapproved indication [Unknown]
  - Off label use [Unknown]
  - Medication error [Unknown]
  - Drug ineffective [Unknown]
  - Intentional product use issue [Unknown]
  - Inappropriate schedule of product administration [Unknown]

NARRATIVE: CASE EVENT DATE: 20080101
